FAERS Safety Report 23415167 (Version 8)
Quarter: 2024Q4

REPORT INFORMATION
  Report Type: Spontaneous
  Country: CA (occurrence: CA)
  Receive Date: 20240118
  Receipt Date: 20241231
  Transmission Date: 20250114
  Serious: Yes (Congenital Anomaly)
  Sender: BRISTOL-MYERS SQUIBB COMPANY
  Company Number: CA-BRISTOL-MYERS SQUIBB COMPANY-2022-025869

PATIENT

DRUGS (1223)
  1. ABATACEPT [Suspect]
     Active Substance: ABATACEPT
     Indication: Product used for unknown indication
     Dosage: 365 DOSAGE FORM
     Route: 064
  2. ABATACEPT [Suspect]
     Active Substance: ABATACEPT
     Route: 064
  3. ORENCIA [Suspect]
     Active Substance: ABATACEPT
     Indication: Product used for unknown indication
     Route: 064
  4. ORENCIA [Suspect]
     Active Substance: ABATACEPT
     Route: 064
  5. ORENCIA [Suspect]
     Active Substance: ABATACEPT
     Dosage: 11 YEARS
     Route: 064
  6. ORENCIA [Suspect]
     Active Substance: ABATACEPT
     Route: 064
  7. ORENCIA [Suspect]
     Active Substance: ABATACEPT
     Route: 064
  8. ORENCIA [Suspect]
     Active Substance: ABATACEPT
     Route: 064
  9. ORENCIA [Suspect]
     Active Substance: ABATACEPT
     Route: 064
  10. ORENCIA [Suspect]
     Active Substance: ABATACEPT
     Route: 064
  11. ORENCIA [Suspect]
     Active Substance: ABATACEPT
     Route: 064
  12. ORENCIA [Suspect]
     Active Substance: ABATACEPT
     Route: 064
  13. ORENCIA [Suspect]
     Active Substance: ABATACEPT
     Route: 064
  14. ORENCIA [Suspect]
     Active Substance: ABATACEPT
     Route: 064
  15. ORENCIA [Suspect]
     Active Substance: ABATACEPT
     Route: 064
  16. ORENCIA [Suspect]
     Active Substance: ABATACEPT
     Route: 064
  17. ORENCIA [Suspect]
     Active Substance: ABATACEPT
     Route: 064
  18. ORENCIA [Suspect]
     Active Substance: ABATACEPT
     Route: 064
  19. ORENCIA [Suspect]
     Active Substance: ABATACEPT
     Route: 064
  20. ORENCIA [Suspect]
     Active Substance: ABATACEPT
     Route: 064
  21. ORENCIA [Suspect]
     Active Substance: ABATACEPT
     Route: 064
  22. ORENCIA [Suspect]
     Active Substance: ABATACEPT
     Route: 064
  23. ORENCIA [Suspect]
     Active Substance: ABATACEPT
     Route: 064
  24. ORENCIA [Suspect]
     Active Substance: ABATACEPT
     Route: 064
  25. ORENCIA [Suspect]
     Active Substance: ABATACEPT
     Route: 064
  26. ORENCIA [Suspect]
     Active Substance: ABATACEPT
     Route: 064
  27. ORENCIA [Suspect]
     Active Substance: ABATACEPT
     Route: 064
  28. ORENCIA [Suspect]
     Active Substance: ABATACEPT
     Route: 064
  29. ORENCIA [Suspect]
     Active Substance: ABATACEPT
     Route: 064
  30. ORENCIA [Suspect]
     Active Substance: ABATACEPT
     Indication: Product used for unknown indication
     Route: 064
  31. ORENCIA [Suspect]
     Active Substance: ABATACEPT
     Route: 064
  32. ORENCIA [Suspect]
     Active Substance: ABATACEPT
     Route: 064
  33. ORENCIA [Suspect]
     Active Substance: ABATACEPT
     Route: 064
  34. ORENCIA [Suspect]
     Active Substance: ABATACEPT
     Route: 064
  35. ORENCIA [Suspect]
     Active Substance: ABATACEPT
     Route: 064
  36. ORENCIA [Suspect]
     Active Substance: ABATACEPT
     Route: 064
  37. ORENCIA [Suspect]
     Active Substance: ABATACEPT
     Route: 064
  38. ORENCIA [Suspect]
     Active Substance: ABATACEPT
     Route: 064
  39. ORENCIA [Suspect]
     Active Substance: ABATACEPT
     Route: 064
  40. ORENCIA [Suspect]
     Active Substance: ABATACEPT
     Route: 064
  41. ORENCIA [Suspect]
     Active Substance: ABATACEPT
     Route: 064
  42. ORENCIA [Suspect]
     Active Substance: ABATACEPT
     Route: 064
  43. ORENCIA [Suspect]
     Active Substance: ABATACEPT
     Route: 064
  44. ORENCIA [Suspect]
     Active Substance: ABATACEPT
     Route: 064
  45. ORENCIA [Suspect]
     Active Substance: ABATACEPT
     Route: 064
  46. ORENCIA [Suspect]
     Active Substance: ABATACEPT
     Route: 064
  47. ORENCIA [Suspect]
     Active Substance: ABATACEPT
     Route: 064
  48. ORENCIA [Suspect]
     Active Substance: ABATACEPT
     Route: 064
  49. ORENCIA [Suspect]
     Active Substance: ABATACEPT
     Indication: Product used for unknown indication
     Route: 064
  50. ORENCIA [Suspect]
     Active Substance: ABATACEPT
     Route: 064
  51. ORENCIA [Suspect]
     Active Substance: ABATACEPT
     Route: 064
  52. ORENCIA [Suspect]
     Active Substance: ABATACEPT
     Route: 064
  53. ORENCIA [Suspect]
     Active Substance: ABATACEPT
     Route: 064
  54. ORENCIA [Suspect]
     Active Substance: ABATACEPT
     Route: 064
  55. ORENCIA [Suspect]
     Active Substance: ABATACEPT
     Route: 064
  56. ORENCIA [Suspect]
     Active Substance: ABATACEPT
     Route: 064
  57. ORENCIA [Suspect]
     Active Substance: ABATACEPT
     Route: 064
  58. ORENCIA [Suspect]
     Active Substance: ABATACEPT
     Route: 064
  59. TRIAMCINOLONE ACETONIDE [Suspect]
     Active Substance: TRIAMCINOLONE ACETONIDE
     Indication: Product used for unknown indication
     Dosage: SUSPENSION INTRA-ARTICULAR
     Route: 064
  60. TRIAMCINOLONE ACETONIDE [Suspect]
     Active Substance: TRIAMCINOLONE ACETONIDE
     Route: 064
  61. TRIAMCINOLONE ACETONIDE [Suspect]
     Active Substance: TRIAMCINOLONE ACETONIDE
     Dosage: SUSPENSION INTRA-ARTICULAR
     Route: 064
  62. TRIAMCINOLONE ACETONIDE [Suspect]
     Active Substance: TRIAMCINOLONE ACETONIDE
     Dosage: SUSPENSION INTRA- ARTICULAR
     Route: 064
  63. TRIAMCINOLONE ACETONIDE [Suspect]
     Active Substance: TRIAMCINOLONE ACETONIDE
     Dosage: SUSPENSION INTRA-ARTICULAR
     Route: 064
  64. ACETAMINOPHEN AND CODEINE [Concomitant]
     Active Substance: ACETAMINOPHEN\CODEINE PHOSPHATE
     Indication: Product used for unknown indication
     Route: 064
  65. ACTEMRA [Concomitant]
     Active Substance: TOCILIZUMAB
     Indication: Product used for unknown indication
     Route: 064
  66. ACTEMRA [Concomitant]
     Active Substance: TOCILIZUMAB
     Route: 064
  67. ACTEMRA [Concomitant]
     Active Substance: TOCILIZUMAB
     Route: 064
  68. ACTEMRA [Concomitant]
     Active Substance: TOCILIZUMAB
     Route: 064
  69. ACTEMRA [Concomitant]
     Active Substance: TOCILIZUMAB
     Route: 064
  70. ACTEMRA [Concomitant]
     Active Substance: TOCILIZUMAB
     Route: 064
  71. ACTEMRA [Concomitant]
     Active Substance: TOCILIZUMAB
     Route: 064
  72. ACTEMRA [Concomitant]
     Active Substance: TOCILIZUMAB
     Route: 064
  73. ACTEMRA [Concomitant]
     Active Substance: TOCILIZUMAB
     Route: 064
  74. ACTEMRA [Concomitant]
     Active Substance: TOCILIZUMAB
     Route: 064
  75. ACTEMRA [Concomitant]
     Active Substance: TOCILIZUMAB
     Dosage: 1 DF=3011.2?1 DOSAGE FORM
     Route: 064
  76. ACTEMRA [Concomitant]
     Active Substance: TOCILIZUMAB
     Route: 064
  77. ACTEMRA [Concomitant]
     Active Substance: TOCILIZUMAB
     Route: 064
  78. ACTEMRA [Concomitant]
     Active Substance: TOCILIZUMAB
     Route: 064
  79. ACTEMRA [Concomitant]
     Active Substance: TOCILIZUMAB
     Route: 064
  80. ACTEMRA [Concomitant]
     Active Substance: TOCILIZUMAB
     Route: 064
  81. ACTEMRA [Concomitant]
     Active Substance: TOCILIZUMAB
     Route: 064
  82. ACTEMRA [Concomitant]
     Active Substance: TOCILIZUMAB
     Route: 064
  83. ACTEMRA [Concomitant]
     Active Substance: TOCILIZUMAB
     Route: 064
  84. ACTEMRA [Concomitant]
     Active Substance: TOCILIZUMAB
     Route: 064
  85. ACTEMRA [Concomitant]
     Active Substance: TOCILIZUMAB
     Route: 064
  86. ACTEMRA [Concomitant]
     Active Substance: TOCILIZUMAB
     Dosage: 728.8 EQUIVALENT
     Route: 064
  87. ACTEMRA [Concomitant]
     Active Substance: TOCILIZUMAB
     Route: 064
  88. ACTEMRA [Concomitant]
     Active Substance: TOCILIZUMAB
     Route: 064
  89. ACTEMRA [Concomitant]
     Active Substance: TOCILIZUMAB
     Route: 064
  90. ACTEMRA [Concomitant]
     Active Substance: TOCILIZUMAB
     Route: 064
  91. ACTEMRA [Concomitant]
     Active Substance: TOCILIZUMAB
     Route: 064
  92. ACTEMRA [Concomitant]
     Active Substance: TOCILIZUMAB
     Route: 064
  93. ACTEMRA [Concomitant]
     Active Substance: TOCILIZUMAB
     Route: 064
  94. ACTEMRA [Concomitant]
     Active Substance: TOCILIZUMAB
     Route: 064
  95. ACTEMRA [Concomitant]
     Active Substance: TOCILIZUMAB
     Route: 064
  96. ACTEMRA [Concomitant]
     Active Substance: TOCILIZUMAB
     Route: 064
  97. ACTEMRA [Concomitant]
     Active Substance: TOCILIZUMAB
     Route: 064
  98. ACTEMRA [Concomitant]
     Active Substance: TOCILIZUMAB
     Route: 064
  99. ACTEMRA [Concomitant]
     Active Substance: TOCILIZUMAB
     Route: 064
  100. ACTEMRA [Concomitant]
     Active Substance: TOCILIZUMAB
     Route: 064
  101. ACTEMRA [Concomitant]
     Active Substance: TOCILIZUMAB
     Route: 064
  102. ADALIMUMAB [Concomitant]
     Active Substance: ADALIMUMAB
     Indication: Product used for unknown indication
     Dosage: SOLUTION SUBCUTANEOUS
     Route: 064
  103. ADALIMUMAB [Concomitant]
     Active Substance: ADALIMUMAB
     Route: 064
  104. ADALIMUMAB [Concomitant]
     Active Substance: ADALIMUMAB
     Dosage: SOLUTION SUBCUTANEOUS
     Route: 064
  105. ADALIMUMAB [Concomitant]
     Active Substance: ADALIMUMAB
     Dosage: SOLUTION SUBCUTANEOUS
     Route: 064
  106. ADALIMUMAB [Concomitant]
     Active Substance: ADALIMUMAB
     Route: 064
  107. ADALIMUMAB [Concomitant]
     Active Substance: ADALIMUMAB
     Dosage: SOLUTION SUBCUTANEOUS
     Route: 064
  108. ADALIMUMAB [Concomitant]
     Active Substance: ADALIMUMAB
     Route: 064
  109. ADALIMUMAB [Concomitant]
     Active Substance: ADALIMUMAB
     Route: 064
  110. ADALIMUMAB [Concomitant]
     Active Substance: ADALIMUMAB
     Route: 064
  111. ADALIMUMAB [Concomitant]
     Active Substance: ADALIMUMAB
     Route: 064
  112. ADALIMUMAB [Concomitant]
     Active Substance: ADALIMUMAB
     Route: 064
  113. ALENDRONATE [Concomitant]
     Active Substance: ALENDRONATE SODIUM
     Indication: Product used for unknown indication
     Route: 064
  114. ALENDRONATE [Concomitant]
     Active Substance: ALENDRONATE SODIUM
     Route: 064
  115. ALENDRONATE SODIUM\CHOLECALCIFEROL [Concomitant]
     Active Substance: ALENDRONATE SODIUM\CHOLECALCIFEROL
     Indication: Product used for unknown indication
     Route: 064
  116. ALENDRONATE SODIUM\CHOLECALCIFEROL [Concomitant]
     Active Substance: ALENDRONATE SODIUM\CHOLECALCIFEROL
     Route: 064
  117. ALENDRONIC ACID [Concomitant]
     Active Substance: ALENDRONIC ACID
     Indication: Product used for unknown indication
     Route: 064
  118. ALENDRONIC ACID [Concomitant]
     Active Substance: ALENDRONIC ACID
     Route: 064
  119. ALENDRONIC ACID [Concomitant]
     Active Substance: ALENDRONIC ACID
     Route: 064
  120. ALENDRONIC ACID [Concomitant]
     Active Substance: ALENDRONIC ACID
     Route: 064
  121. ALENDRONIC ACID [Concomitant]
     Active Substance: ALENDRONIC ACID
     Route: 064
  122. ALENDRONIC ACID [Concomitant]
     Active Substance: ALENDRONIC ACID
     Route: 064
  123. PREDNISONE [Concomitant]
     Active Substance: PREDNISONE
     Indication: Product used for unknown indication
     Route: 064
  124. PREDNISONE [Concomitant]
     Active Substance: PREDNISONE
     Route: 064
  125. PREDNISONE [Concomitant]
     Active Substance: PREDNISONE
     Route: 064
  126. PREDNISONE [Concomitant]
     Active Substance: PREDNISONE
     Route: 064
  127. PREDNISONE [Concomitant]
     Active Substance: PREDNISONE
     Route: 064
  128. PREDNISONE [Concomitant]
     Active Substance: PREDNISONE
     Route: 064
  129. PREDNISONE [Concomitant]
     Active Substance: PREDNISONE
     Route: 064
  130. PREDNISONE [Concomitant]
     Active Substance: PREDNISONE
     Route: 064
  131. PREDNISONE [Concomitant]
     Active Substance: PREDNISONE
     Route: 064
  132. PREDNISONE [Concomitant]
     Active Substance: PREDNISONE
     Route: 064
  133. PREDNISONE [Concomitant]
     Active Substance: PREDNISONE
     Route: 064
  134. ARAVA [Concomitant]
     Active Substance: LEFLUNOMIDE
     Indication: Product used for unknown indication
     Route: 064
  135. ARAVA [Concomitant]
     Active Substance: LEFLUNOMIDE
     Route: 064
  136. ARAVA [Concomitant]
     Active Substance: LEFLUNOMIDE
     Route: 064
  137. ARAVA [Concomitant]
     Active Substance: LEFLUNOMIDE
     Route: 064
  138. ARAVA [Concomitant]
     Active Substance: LEFLUNOMIDE
     Route: 064
  139. ARAVA [Concomitant]
     Active Substance: LEFLUNOMIDE
     Route: 064
  140. ARAVA [Concomitant]
     Active Substance: LEFLUNOMIDE
     Route: 064
  141. CETIRIZINE [Concomitant]
     Active Substance: CETIRIZINE HYDROCHLORIDE
     Indication: Product used for unknown indication
     Route: 064
  142. CETIRIZINE [Concomitant]
     Active Substance: CETIRIZINE HYDROCHLORIDE
     Route: 064
  143. CETIRIZINE [Concomitant]
     Active Substance: CETIRIZINE HYDROCHLORIDE
     Route: 064
  144. CETIRIZINE [Concomitant]
     Active Substance: CETIRIZINE HYDROCHLORIDE
     Route: 064
  145. CETIRIZINE [Concomitant]
     Active Substance: CETIRIZINE HYDROCHLORIDE
     Route: 064
  146. CETIRIZINE [Concomitant]
     Active Substance: CETIRIZINE HYDROCHLORIDE
     Route: 064
  147. CETIRIZINE [Concomitant]
     Active Substance: CETIRIZINE HYDROCHLORIDE
     Route: 064
  148. CETIRIZINE [Concomitant]
     Active Substance: CETIRIZINE HYDROCHLORIDE
     Route: 064
  149. CETIRIZINE [Concomitant]
     Active Substance: CETIRIZINE HYDROCHLORIDE
     Route: 064
  150. CETIRIZINE [Concomitant]
     Active Substance: CETIRIZINE HYDROCHLORIDE
     Route: 064
  151. CETIRIZINE [Concomitant]
     Active Substance: CETIRIZINE HYDROCHLORIDE
     Route: 064
  152. CETIRIZINE [Concomitant]
     Active Substance: CETIRIZINE HYDROCHLORIDE
     Route: 064
  153. CETIRIZINE [Concomitant]
     Active Substance: CETIRIZINE HYDROCHLORIDE
     Route: 064
  154. CETIRIZINE [Concomitant]
     Active Substance: CETIRIZINE HYDROCHLORIDE
     Route: 064
  155. CETIRIZINE [Concomitant]
     Active Substance: CETIRIZINE HYDROCHLORIDE
     Route: 064
  156. CETIRIZINE [Concomitant]
     Active Substance: CETIRIZINE HYDROCHLORIDE
     Route: 064
  157. CETIRIZINE [Concomitant]
     Active Substance: CETIRIZINE HYDROCHLORIDE
     Route: 064
  158. CHLORHEXIDINE [Concomitant]
     Active Substance: CHLORHEXIDINE
     Indication: Product used for unknown indication
     Route: 064
  159. CHLORHEXIDINE [Concomitant]
     Active Substance: CHLORHEXIDINE
     Route: 064
  160. CHLORHEXIDINE [Concomitant]
     Active Substance: CHLORHEXIDINE
     Route: 064
  161. CHLORHEXIDINE [Concomitant]
     Active Substance: CHLORHEXIDINE
     Route: 064
  162. CHLORHEXIDINE [Concomitant]
     Active Substance: CHLORHEXIDINE
     Route: 064
  163. CHLORHEXIDINE [Concomitant]
     Active Substance: CHLORHEXIDINE
     Route: 064
  164. CHLORHEXIDINE [Concomitant]
     Active Substance: CHLORHEXIDINE
     Route: 064
  165. CHLORHEXIDINE GLUCONATE\ISOPROPYL ALCOHOL [Concomitant]
     Active Substance: CHLORHEXIDINE GLUCONATE\ISOPROPYL ALCOHOL
     Indication: Product used for unknown indication
     Route: 064
  166. CHLORHEXIDINE GLUCONATE\ISOPROPYL ALCOHOL [Concomitant]
     Active Substance: CHLORHEXIDINE GLUCONATE\ISOPROPYL ALCOHOL
     Route: 064
  167. CIMZIA [Concomitant]
     Active Substance: CERTOLIZUMAB PEGOL
     Indication: Product used for unknown indication
     Route: 064
  168. CIMZIA [Concomitant]
     Active Substance: CERTOLIZUMAB PEGOL
     Route: 064
  169. CIMZIA [Concomitant]
     Active Substance: CERTOLIZUMAB PEGOL
     Route: 064
  170. CIMZIA [Concomitant]
     Active Substance: CERTOLIZUMAB PEGOL
     Route: 064
  171. CIMZIA [Concomitant]
     Active Substance: CERTOLIZUMAB PEGOL
     Route: 064
  172. CIMZIA [Concomitant]
     Active Substance: CERTOLIZUMAB PEGOL
     Route: 064
  173. CIMZIA [Concomitant]
     Active Substance: CERTOLIZUMAB PEGOL
     Route: 064
  174. CIMZIA [Concomitant]
     Active Substance: CERTOLIZUMAB PEGOL
     Route: 064
  175. CIMZIA [Concomitant]
     Active Substance: CERTOLIZUMAB PEGOL
     Route: 064
  176. CIMZIA [Concomitant]
     Active Substance: CERTOLIZUMAB PEGOL
     Route: 064
  177. CIMZIA [Concomitant]
     Active Substance: CERTOLIZUMAB PEGOL
     Route: 064
  178. CIMZIA [Concomitant]
     Active Substance: CERTOLIZUMAB PEGOL
     Route: 064
  179. CIMZIA [Concomitant]
     Active Substance: CERTOLIZUMAB PEGOL
     Route: 064
  180. CIMZIA [Concomitant]
     Active Substance: CERTOLIZUMAB PEGOL
     Route: 064
  181. HYDROXYCHLOROQUINE [Concomitant]
     Active Substance: HYDROXYCHLOROQUINE
     Indication: Product used for unknown indication
     Route: 064
  182. HYDROXYCHLOROQUINE [Concomitant]
     Active Substance: HYDROXYCHLOROQUINE
     Route: 064
  183. HYDROXYCHLOROQUINE [Concomitant]
     Active Substance: HYDROXYCHLOROQUINE
     Route: 064
  184. HYDROXYCHLOROQUINE [Concomitant]
     Active Substance: HYDROXYCHLOROQUINE
     Route: 064
  185. HYDROXYCHLOROQUINE [Concomitant]
     Active Substance: HYDROXYCHLOROQUINE
     Route: 064
  186. HYDROXYCHLOROQUINE [Concomitant]
     Active Substance: HYDROXYCHLOROQUINE
     Route: 064
  187. HYDROXYCHLOROQUINE [Concomitant]
     Active Substance: HYDROXYCHLOROQUINE
     Route: 064
  188. HYDROXYCHLOROQUINE [Concomitant]
     Active Substance: HYDROXYCHLOROQUINE
     Route: 064
  189. HYDROXYCHLOROQUINE [Concomitant]
     Active Substance: HYDROXYCHLOROQUINE
     Route: 064
  190. HYDROXYCHLOROQUINE [Concomitant]
     Active Substance: HYDROXYCHLOROQUINE
     Route: 064
  191. HYDROXYCHLOROQUINE [Concomitant]
     Active Substance: HYDROXYCHLOROQUINE
     Route: 064
  192. HYDROXYCHLOROQUINE [Concomitant]
     Active Substance: HYDROXYCHLOROQUINE
     Route: 064
  193. HYDROXYCHLOROQUINE [Concomitant]
     Active Substance: HYDROXYCHLOROQUINE
     Route: 064
  194. HYDROXYCHLOROQUINE [Concomitant]
     Active Substance: HYDROXYCHLOROQUINE
     Route: 064
  195. HYDROXYCHLOROQUINE [Concomitant]
     Active Substance: HYDROXYCHLOROQUINE
     Route: 064
  196. HYDROXYCHLOROQUINE [Concomitant]
     Active Substance: HYDROXYCHLOROQUINE
     Route: 064
  197. HYDROXYCHLOROQUINE [Concomitant]
     Active Substance: HYDROXYCHLOROQUINE
     Route: 064
  198. HYDROXYCHLOROQUINE [Concomitant]
     Active Substance: HYDROXYCHLOROQUINE
     Route: 064
  199. HYDROXYCHLOROQUINE [Concomitant]
     Active Substance: HYDROXYCHLOROQUINE
     Route: 064
  200. HYDROXYCHLOROQUINE [Concomitant]
     Active Substance: HYDROXYCHLOROQUINE
     Route: 064
  201. HYDROXYCHLOROQUINE [Concomitant]
     Active Substance: HYDROXYCHLOROQUINE
     Route: 064
  202. HYDROXYCHLOROQUINE [Concomitant]
     Active Substance: HYDROXYCHLOROQUINE
     Route: 064
  203. HYDROXYCHLOROQUINE [Concomitant]
     Active Substance: HYDROXYCHLOROQUINE
     Route: 064
  204. HYDROXYCHLOROQUINE [Concomitant]
     Active Substance: HYDROXYCHLOROQUINE
     Route: 064
  205. HYDROXYCHLOROQUINE [Concomitant]
     Active Substance: HYDROXYCHLOROQUINE
     Route: 064
  206. HYDROXYCHLOROQUINE [Concomitant]
     Active Substance: HYDROXYCHLOROQUINE
     Route: 064
  207. HYDROXYCHLOROQUINE [Concomitant]
     Active Substance: HYDROXYCHLOROQUINE
     Route: 064
  208. HYDROXYCHLOROQUINE [Concomitant]
     Active Substance: HYDROXYCHLOROQUINE
     Route: 064
  209. HYDROXYCHLOROQUINE [Concomitant]
     Active Substance: HYDROXYCHLOROQUINE
     Route: 064
  210. DESOXIMETASONE [Concomitant]
     Active Substance: DESOXIMETASONE
     Indication: Product used for unknown indication
     Route: 064
  211. DESOXIMETASONE [Concomitant]
     Active Substance: DESOXIMETASONE
     Route: 064
  212. DESOXIMETASONE [Concomitant]
     Active Substance: DESOXIMETASONE
     Route: 064
  213. DESOXIMETASONE [Concomitant]
     Active Substance: DESOXIMETASONE
     Route: 064
  214. DESOXIMETASONE [Concomitant]
     Active Substance: DESOXIMETASONE
     Route: 064
  215. DESOXIMETASONE [Concomitant]
     Active Substance: DESOXIMETASONE
     Route: 064
  216. DESOXIMETASONE [Concomitant]
     Active Substance: DESOXIMETASONE
     Route: 064
  217. DESOXIMETASONE [Concomitant]
     Active Substance: DESOXIMETASONE
     Route: 064
  218. DESOXIMETASONE [Concomitant]
     Active Substance: DESOXIMETASONE
     Route: 064
  219. DESOXIMETASONE [Concomitant]
     Active Substance: DESOXIMETASONE
     Route: 064
  220. DESOXIMETASONE [Concomitant]
     Active Substance: DESOXIMETASONE
     Route: 064
  221. DESOXIMETASONE [Concomitant]
     Active Substance: DESOXIMETASONE
     Route: 064
  222. DESOXIMETASONE [Concomitant]
     Active Substance: DESOXIMETASONE
     Route: 064
  223. DESOXIMETASONE [Concomitant]
     Active Substance: DESOXIMETASONE
     Route: 064
  224. DESOXIMETASONE [Concomitant]
     Active Substance: DESOXIMETASONE
     Route: 064
  225. DESOXIMETASONE [Concomitant]
     Active Substance: DESOXIMETASONE
     Route: 064
  226. DESOXIMETASONE [Concomitant]
     Active Substance: DESOXIMETASONE
     Route: 064
  227. DESOXIMETASONE [Concomitant]
     Active Substance: DESOXIMETASONE
     Route: 064
  228. DESOXIMETASONE [Concomitant]
     Active Substance: DESOXIMETASONE
     Route: 064
  229. DESOXIMETASONE [Concomitant]
     Active Substance: DESOXIMETASONE
     Route: 064
  230. DESOXIMETASONE [Concomitant]
     Active Substance: DESOXIMETASONE
     Route: 064
  231. DESOXIMETASONE [Concomitant]
     Active Substance: DESOXIMETASONE
     Route: 064
  232. DESOXIMETASONE [Concomitant]
     Active Substance: DESOXIMETASONE
     Route: 064
  233. DICLOFENAC [Concomitant]
     Active Substance: DICLOFENAC
     Indication: Product used for unknown indication
     Route: 064
  234. DICLOFENAC [Concomitant]
     Active Substance: DICLOFENAC
     Route: 064
  235. DICLOFENAC [Concomitant]
     Active Substance: DICLOFENAC
     Route: 064
  236. DICLOFENAC SODIUM [Concomitant]
     Active Substance: DICLOFENAC SODIUM
     Indication: Product used for unknown indication
     Route: 064
  237. DICLOFENAC SODIUM [Concomitant]
     Active Substance: DICLOFENAC SODIUM
     Route: 064
  238. DICLOFENAC SODIUM [Concomitant]
     Active Substance: DICLOFENAC SODIUM
     Route: 064
  239. DICLOFENAC SODIUM [Concomitant]
     Active Substance: DICLOFENAC SODIUM
     Route: 064
  240. DICLOFENAC SODIUM [Concomitant]
     Active Substance: DICLOFENAC SODIUM
     Route: 064
  241. DICLOFENAC SODIUM [Concomitant]
     Active Substance: DICLOFENAC SODIUM
     Route: 064
  242. ENBREL [Concomitant]
     Active Substance: ETANERCEPT
     Indication: Product used for unknown indication
     Route: 064
  243. ENBREL [Concomitant]
     Active Substance: ETANERCEPT
     Route: 064
  244. ENBREL [Concomitant]
     Active Substance: ETANERCEPT
     Route: 064
  245. ENBREL [Concomitant]
     Active Substance: ETANERCEPT
     Route: 064
  246. ENBREL [Concomitant]
     Active Substance: ETANERCEPT
     Route: 064
  247. ENBREL [Concomitant]
     Active Substance: ETANERCEPT
     Route: 064
  248. ENBREL [Concomitant]
     Active Substance: ETANERCEPT
     Route: 064
  249. ENBREL [Concomitant]
     Active Substance: ETANERCEPT
     Route: 064
  250. ENBREL [Concomitant]
     Active Substance: ETANERCEPT
     Route: 064
  251. ENBREL [Concomitant]
     Active Substance: ETANERCEPT
     Route: 064
  252. ENBREL [Concomitant]
     Active Substance: ETANERCEPT
     Route: 064
  253. ENBREL [Concomitant]
     Active Substance: ETANERCEPT
     Route: 064
  254. ENBREL [Concomitant]
     Active Substance: ETANERCEPT
     Route: 064
  255. ENBREL [Concomitant]
     Active Substance: ETANERCEPT
     Route: 064
  256. ENBREL [Concomitant]
     Active Substance: ETANERCEPT
     Route: 064
  257. FOLIC ACID [Concomitant]
     Active Substance: FOLIC ACID
     Indication: Product used for unknown indication
     Route: 064
  258. FOLIC ACID [Concomitant]
     Active Substance: FOLIC ACID
     Route: 064
  259. FOLIC ACID [Concomitant]
     Active Substance: FOLIC ACID
     Route: 064
  260. FOLIC ACID [Concomitant]
     Active Substance: FOLIC ACID
     Route: 064
  261. FOLIC ACID [Concomitant]
     Active Substance: FOLIC ACID
     Route: 064
  262. FOLIC ACID [Concomitant]
     Active Substance: FOLIC ACID
     Route: 064
  263. FOLIC ACID [Concomitant]
     Active Substance: FOLIC ACID
     Route: 064
  264. FOLIC ACID [Concomitant]
     Active Substance: FOLIC ACID
     Route: 064
  265. FOLIC ACID [Concomitant]
     Active Substance: FOLIC ACID
     Route: 064
  266. FOLIC ACID [Concomitant]
     Active Substance: FOLIC ACID
     Route: 064
  267. FOLIC ACID [Concomitant]
     Active Substance: FOLIC ACID
     Route: 064
  268. FOLIC ACID [Concomitant]
     Active Substance: FOLIC ACID
     Route: 064
  269. FOLIC ACID [Concomitant]
     Active Substance: FOLIC ACID
     Route: 064
  270. FOLIC ACID [Concomitant]
     Active Substance: FOLIC ACID
     Route: 064
  271. FOLIC ACID [Concomitant]
     Active Substance: FOLIC ACID
     Route: 064
  272. FOLIC ACID [Concomitant]
     Active Substance: FOLIC ACID
     Route: 064
  273. FOLIC ACID [Concomitant]
     Active Substance: FOLIC ACID
     Route: 064
  274. FOLIC ACID [Concomitant]
     Active Substance: FOLIC ACID
     Route: 064
  275. FOLIC ACID [Concomitant]
     Active Substance: FOLIC ACID
     Route: 064
  276. FOLIC ACID [Concomitant]
     Active Substance: FOLIC ACID
     Route: 064
  277. FOLIC ACID [Concomitant]
     Active Substance: FOLIC ACID
     Route: 064
  278. FOLIC ACID [Concomitant]
     Active Substance: FOLIC ACID
     Route: 064
  279. FOLIC ACID [Concomitant]
     Active Substance: FOLIC ACID
     Route: 064
  280. FOLIC ACID [Concomitant]
     Active Substance: FOLIC ACID
     Route: 064
  281. FOLIC ACID [Concomitant]
     Active Substance: FOLIC ACID
     Route: 064
  282. FOLIC ACID [Concomitant]
     Active Substance: FOLIC ACID
     Route: 064
  283. FOLIC ACID [Concomitant]
     Active Substance: FOLIC ACID
     Route: 064
  284. FOLIC ACID [Concomitant]
     Active Substance: FOLIC ACID
     Route: 064
  285. FOSAMAX [Concomitant]
     Active Substance: ALENDRONATE SODIUM
     Indication: Product used for unknown indication
     Route: 064
  286. FOSAMAX [Concomitant]
     Active Substance: ALENDRONATE SODIUM
     Route: 064
  287. FOSAMAX [Concomitant]
     Active Substance: ALENDRONATE SODIUM
     Route: 064
  288. FOSAMAX [Concomitant]
     Active Substance: ALENDRONATE SODIUM
     Route: 064
  289. FOSAMAX [Concomitant]
     Active Substance: ALENDRONATE SODIUM
     Route: 064
  290. FOSAMAX [Concomitant]
     Active Substance: ALENDRONATE SODIUM
     Route: 064
  291. FOSAMAX [Concomitant]
     Active Substance: ALENDRONATE SODIUM
     Route: 064
  292. FOSAMAX [Concomitant]
     Active Substance: ALENDRONATE SODIUM
     Route: 064
  293. FOSAMAX [Concomitant]
     Active Substance: ALENDRONATE SODIUM
     Route: 064
  294. FOSAMAX [Concomitant]
     Active Substance: ALENDRONATE SODIUM
     Route: 064
  295. FOSAMAX [Concomitant]
     Active Substance: ALENDRONATE SODIUM
     Route: 064
  296. FOSAMAX [Concomitant]
     Active Substance: ALENDRONATE SODIUM
     Route: 064
  297. FOSAMAX [Concomitant]
     Active Substance: ALENDRONATE SODIUM
     Route: 064
  298. FOSAMAX [Concomitant]
     Active Substance: ALENDRONATE SODIUM
     Route: 064
  299. HUMIRA [Concomitant]
     Active Substance: ADALIMUMAB
     Indication: Product used for unknown indication
     Route: 064
  300. HUMIRA [Concomitant]
     Active Substance: ADALIMUMAB
     Dosage: SOLUTION SUBCUTANEOUS
     Route: 064
  301. HUMIRA [Concomitant]
     Active Substance: ADALIMUMAB
     Dosage: SOLUTION SUBCUTANEOUS
     Route: 064
  302. HUMIRA [Concomitant]
     Active Substance: ADALIMUMAB
     Dosage: SOLUTION SUBCUTANEOUS
     Route: 064
  303. HUMIRA [Concomitant]
     Active Substance: ADALIMUMAB
     Dosage: SOLUTION SUBCUTANEOUS
     Route: 064
  304. HUMIRA [Concomitant]
     Active Substance: ADALIMUMAB
     Route: 064
  305. HUMIRA [Concomitant]
     Active Substance: ADALIMUMAB
     Route: 064
  306. HUMIRA [Concomitant]
     Active Substance: ADALIMUMAB
     Route: 064
  307. HUMIRA [Concomitant]
     Active Substance: ADALIMUMAB
     Route: 064
  308. HUMIRA [Concomitant]
     Active Substance: ADALIMUMAB
     Route: 064
  309. HUMIRA [Concomitant]
     Active Substance: ADALIMUMAB
     Route: 064
  310. HUMIRA [Concomitant]
     Active Substance: ADALIMUMAB
     Dosage: SOLUTION SUBCUTANEOUS
     Route: 064
  311. HUMIRA [Concomitant]
     Active Substance: ADALIMUMAB
     Route: 064
  312. HUMIRA [Concomitant]
     Active Substance: ADALIMUMAB
     Route: 064
  313. HUMIRA [Concomitant]
     Active Substance: ADALIMUMAB
     Route: 064
  314. HUMIRA [Concomitant]
     Active Substance: ADALIMUMAB
     Route: 064
  315. HUMIRA [Concomitant]
     Active Substance: ADALIMUMAB
     Route: 064
  316. HYDROCORTISONE ACETATE [Concomitant]
     Active Substance: HYDROCORTISONE ACETATE
     Indication: Product used for unknown indication
     Route: 064
  317. INFLIXIMAB [Concomitant]
     Active Substance: INFLIXIMAB
     Indication: Product used for unknown indication
     Route: 064
  318. INFLIXIMAB [Concomitant]
     Active Substance: INFLIXIMAB
     Route: 064
  319. INFLIXIMAB [Concomitant]
     Active Substance: INFLIXIMAB
     Route: 064
  320. INFLIXIMAB [Concomitant]
     Active Substance: INFLIXIMAB
     Route: 064
  321. INFLIXIMAB [Concomitant]
     Active Substance: INFLIXIMAB
     Route: 064
  322. INFLIXIMAB [Concomitant]
     Active Substance: INFLIXIMAB
     Route: 064
  323. INFLIXIMAB [Concomitant]
     Active Substance: INFLIXIMAB
     Route: 064
  324. KEVZARA [Concomitant]
     Active Substance: SARILUMAB
     Indication: Product used for unknown indication
     Route: 064
  325. KEVZARA [Concomitant]
     Active Substance: SARILUMAB
     Route: 064
  326. LEFLUNOMIDE [Concomitant]
     Active Substance: LEFLUNOMIDE
     Indication: Product used for unknown indication
     Route: 064
  327. LEFLUNOMIDE [Concomitant]
     Active Substance: LEFLUNOMIDE
     Route: 064
  328. LEFLUNOMIDE [Concomitant]
     Active Substance: LEFLUNOMIDE
     Route: 064
  329. LEFLUNOMIDE [Concomitant]
     Active Substance: LEFLUNOMIDE
     Route: 064
  330. LEFLUNOMIDE [Concomitant]
     Active Substance: LEFLUNOMIDE
     Route: 064
  331. LEFLUNOMIDE [Concomitant]
     Active Substance: LEFLUNOMIDE
     Route: 064
  332. LEFLUNOMIDE [Concomitant]
     Active Substance: LEFLUNOMIDE
     Route: 064
  333. LEFLUNOMIDE [Concomitant]
     Active Substance: LEFLUNOMIDE
     Route: 064
  334. LEFLUNOMIDE [Concomitant]
     Active Substance: LEFLUNOMIDE
     Route: 064
  335. LEFLUNOMIDE [Concomitant]
     Active Substance: LEFLUNOMIDE
     Route: 064
  336. LEFLUNOMIDE [Concomitant]
     Active Substance: LEFLUNOMIDE
     Route: 064
  337. LEFLUNOMIDE [Concomitant]
     Active Substance: LEFLUNOMIDE
     Route: 064
  338. LEFLUNOMIDE [Concomitant]
     Active Substance: LEFLUNOMIDE
     Route: 064
  339. LEFLUNOMIDE [Concomitant]
     Active Substance: LEFLUNOMIDE
     Route: 064
  340. LEFLUNOMIDE [Concomitant]
     Active Substance: LEFLUNOMIDE
     Route: 064
  341. LEFLUNOMIDE [Concomitant]
     Active Substance: LEFLUNOMIDE
     Route: 064
  342. LEFLUNOMIDE [Concomitant]
     Active Substance: LEFLUNOMIDE
     Route: 064
  343. METHOTREXATE [Concomitant]
     Active Substance: METHOTREXATE
     Indication: Product used for unknown indication
     Route: 064
  344. METHOTREXATE [Concomitant]
     Active Substance: METHOTREXATE
     Route: 064
  345. METHOTREXATE [Concomitant]
     Active Substance: METHOTREXATE
     Route: 064
  346. METHOTREXATE [Concomitant]
     Active Substance: METHOTREXATE
     Route: 064
  347. METHOTREXATE [Concomitant]
     Active Substance: METHOTREXATE
     Route: 064
  348. METHOTREXATE [Concomitant]
     Active Substance: METHOTREXATE
     Route: 064
  349. METHOTREXATE [Concomitant]
     Active Substance: METHOTREXATE
     Route: 064
  350. METHOTREXATE [Concomitant]
     Active Substance: METHOTREXATE
     Route: 064
  351. METHOTREXATE [Concomitant]
     Active Substance: METHOTREXATE
     Route: 064
  352. METHOTREXATE [Concomitant]
     Active Substance: METHOTREXATE
     Route: 064
  353. METHOTREXATE [Concomitant]
     Active Substance: METHOTREXATE
     Route: 064
  354. METHOTREXATE [Concomitant]
     Active Substance: METHOTREXATE
     Route: 064
  355. METHOTREXATE [Concomitant]
     Active Substance: METHOTREXATE
     Route: 064
  356. METHOTREXATE [Concomitant]
     Active Substance: METHOTREXATE
     Route: 064
  357. METHOTREXATE [Concomitant]
     Active Substance: METHOTREXATE
     Route: 064
  358. METHOTREXATE [Concomitant]
     Active Substance: METHOTREXATE
     Route: 064
  359. METHOTREXATE [Concomitant]
     Active Substance: METHOTREXATE
     Route: 064
  360. METHOTREXATE [Concomitant]
     Active Substance: METHOTREXATE
     Route: 064
  361. METHOTREXATE [Concomitant]
     Active Substance: METHOTREXATE
     Route: 064
  362. METHOTREXATE [Concomitant]
     Active Substance: METHOTREXATE
     Route: 064
  363. METHOTREXATE [Concomitant]
     Active Substance: METHOTREXATE
     Route: 064
  364. METHOTREXATE [Concomitant]
     Active Substance: METHOTREXATE
     Route: 064
  365. METHOTREXATE [Concomitant]
     Active Substance: METHOTREXATE
     Route: 064
  366. METHOTREXATE [Concomitant]
     Active Substance: METHOTREXATE
     Route: 064
  367. METHOTREXATE [Concomitant]
     Active Substance: METHOTREXATE
     Route: 064
  368. METHOTREXATE [Concomitant]
     Active Substance: METHOTREXATE
     Route: 064
  369. METHOTREXATE [Concomitant]
     Active Substance: METHOTREXATE
     Route: 064
  370. METHOTREXATE [Concomitant]
     Active Substance: METHOTREXATE
     Route: 064
  371. METHOTREXATE [Concomitant]
     Active Substance: METHOTREXATE
     Route: 064
  372. METHOTREXATE [Concomitant]
     Active Substance: METHOTREXATE
     Route: 064
  373. METHOTREXATE [Concomitant]
     Active Substance: METHOTREXATE
     Route: 064
  374. METHOTREXATE [Concomitant]
     Active Substance: METHOTREXATE
     Route: 064
  375. METHOTREXATE [Concomitant]
     Active Substance: METHOTREXATE
     Route: 064
  376. METHOTREXATE [Concomitant]
     Active Substance: METHOTREXATE
     Route: 064
  377. METHOTREXATE [Concomitant]
     Active Substance: METHOTREXATE
     Route: 064
  378. METHOTREXATE [Concomitant]
     Active Substance: METHOTREXATE
     Route: 064
  379. METHOTREXATE [Concomitant]
     Active Substance: METHOTREXATE
     Route: 064
  380. METHOTREXATE [Concomitant]
     Active Substance: METHOTREXATE
     Route: 064
  381. METHOTREXATE [Concomitant]
     Active Substance: METHOTREXATE
     Route: 064
  382. METHOTREXATE [Concomitant]
     Active Substance: METHOTREXATE
     Route: 064
  383. METHOTREXATE [Concomitant]
     Active Substance: METHOTREXATE
     Route: 064
  384. METHOTREXATE [Concomitant]
     Active Substance: METHOTREXATE
     Route: 064
  385. METHOTREXATE [Concomitant]
     Active Substance: METHOTREXATE
     Route: 064
  386. METHOTREXATE [Concomitant]
     Active Substance: METHOTREXATE
     Route: 064
  387. METHOTREXATE [Concomitant]
     Active Substance: METHOTREXATE
     Route: 064
  388. METHOTREXATE [Concomitant]
     Active Substance: METHOTREXATE
     Route: 064
  389. METHOTREXATE [Concomitant]
     Active Substance: METHOTREXATE
     Route: 064
  390. METHOTREXATE [Concomitant]
     Active Substance: METHOTREXATE
     Route: 064
  391. METHOTREXATE [Concomitant]
     Active Substance: METHOTREXATE
     Route: 064
  392. METHOTREXATE [Concomitant]
     Active Substance: METHOTREXATE
     Route: 064
  393. METHOTREXATE [Concomitant]
     Active Substance: METHOTREXATE
     Route: 064
  394. METHOTREXATE [Concomitant]
     Active Substance: METHOTREXATE
     Route: 064
  395. METHOTREXATE [Concomitant]
     Active Substance: METHOTREXATE
     Route: 064
  396. METHOTREXATE [Concomitant]
     Active Substance: METHOTREXATE
     Route: 064
  397. METHOTREXATE [Concomitant]
     Active Substance: METHOTREXATE
     Route: 064
  398. METHOTREXATE [Concomitant]
     Active Substance: METHOTREXATE
     Route: 064
  399. METHOTREXATE [Concomitant]
     Active Substance: METHOTREXATE
     Route: 064
  400. METHOTREXATE [Concomitant]
     Active Substance: METHOTREXATE
     Route: 064
  401. METHOTREXATE [Concomitant]
     Active Substance: METHOTREXATE
     Route: 064
  402. METHOTREXATE [Concomitant]
     Active Substance: METHOTREXATE
     Route: 064
  403. METHOTREXATE [Concomitant]
     Active Substance: METHOTREXATE
     Route: 064
  404. METHOTREXATE [Concomitant]
     Active Substance: METHOTREXATE
     Route: 064
  405. METHOTREXATE [Concomitant]
     Active Substance: METHOTREXATE
     Route: 064
  406. METHOTREXATE [Concomitant]
     Active Substance: METHOTREXATE
     Route: 064
  407. METHOTREXATE [Concomitant]
     Active Substance: METHOTREXATE
     Route: 064
  408. METHOTREXATE SODIUM [Concomitant]
     Active Substance: METHOTREXATE SODIUM
     Indication: Product used for unknown indication
     Route: 064
  409. METHOTREXATE SODIUM [Concomitant]
     Active Substance: METHOTREXATE SODIUM
     Route: 064
  410. METHOTREXATE SODIUM [Concomitant]
     Active Substance: METHOTREXATE SODIUM
     Route: 064
  411. METHOTREXATE SODIUM [Concomitant]
     Active Substance: METHOTREXATE SODIUM
     Route: 064
  412. OXYCODONE [Concomitant]
     Active Substance: OXYCODONE
     Indication: Product used for unknown indication
     Route: 064
  413. OXYCODONE TEREPHTHALATE [Concomitant]
     Active Substance: OXYCODONE TEREPHTHALATE
     Indication: Product used for unknown indication
     Route: 064
  414. OXYCODONE TEREPHTHALATE [Concomitant]
     Active Substance: OXYCODONE TEREPHTHALATE
     Route: 064
  415. OXYCODONE TEREPHTHALATE [Concomitant]
     Active Substance: OXYCODONE TEREPHTHALATE
     Route: 064
  416. PERIOGARD [Concomitant]
     Active Substance: CHLORHEXIDINE GLUCONATE
     Indication: Product used for unknown indication
     Dosage: ALCOHOL FREE
     Route: 064
  417. PERIOGARD [Concomitant]
     Active Substance: CHLORHEXIDINE GLUCONATE
     Dosage: ALCOHOL FREE
     Route: 064
  418. PERIOGARD [Concomitant]
     Active Substance: CHLORHEXIDINE GLUCONATE
     Route: 064
  419. PERIOGARD [Concomitant]
     Active Substance: CHLORHEXIDINE GLUCONATE
     Route: 064
  420. PHTHALYLSULFATHIAZOLE [Concomitant]
     Active Substance: PHTHALYLSULFATHIAZOLE
     Indication: Product used for unknown indication
     Route: 064
  421. PHTHALYLSULFATHIAZOLE [Concomitant]
     Active Substance: PHTHALYLSULFATHIAZOLE
     Route: 064
  422. PHTHALYLSULFATHIAZOLE [Concomitant]
     Active Substance: PHTHALYLSULFATHIAZOLE
     Route: 064
  423. PHTHALYLSULFATHIAZOLE [Concomitant]
     Active Substance: PHTHALYLSULFATHIAZOLE
     Route: 064
  424. PHTHALYLSULFATHIAZOLE [Concomitant]
     Active Substance: PHTHALYLSULFATHIAZOLE
     Dosage: 365 DAYS
     Route: 064
  425. PHTHALYLSULFATHIAZOLE [Concomitant]
     Active Substance: PHTHALYLSULFATHIAZOLE
     Route: 064
  426. PHTHALYLSULFATHIAZOLE [Concomitant]
     Active Substance: PHTHALYLSULFATHIAZOLE
     Route: 064
  427. PHTHALYLSULFATHIAZOLE [Concomitant]
     Active Substance: PHTHALYLSULFATHIAZOLE
     Route: 064
  428. PHTHALYLSULFATHIAZOLE [Concomitant]
     Active Substance: PHTHALYLSULFATHIAZOLE
     Route: 064
  429. PHTHALYLSULFATHIAZOLE [Concomitant]
     Active Substance: PHTHALYLSULFATHIAZOLE
     Route: 064
  430. PHTHALYLSULFATHIAZOLE [Concomitant]
     Active Substance: PHTHALYLSULFATHIAZOLE
     Route: 064
  431. PHTHALYLSULFATHIAZOLE [Concomitant]
     Active Substance: PHTHALYLSULFATHIAZOLE
     Route: 064
  432. PHTHALYLSULFATHIAZOLE [Concomitant]
     Active Substance: PHTHALYLSULFATHIAZOLE
     Route: 064
  433. PHTHALYLSULFATHIAZOLE [Concomitant]
     Active Substance: PHTHALYLSULFATHIAZOLE
     Route: 064
  434. PHTHALYLSULFATHIAZOLE [Concomitant]
     Active Substance: PHTHALYLSULFATHIAZOLE
     Route: 064
  435. PHTHALYLSULFATHIAZOLE [Concomitant]
     Active Substance: PHTHALYLSULFATHIAZOLE
     Route: 064
  436. PHTHALYLSULFATHIAZOLE [Concomitant]
     Active Substance: PHTHALYLSULFATHIAZOLE
     Route: 064
  437. PHTHALYLSULFATHIAZOLE [Concomitant]
     Active Substance: PHTHALYLSULFATHIAZOLE
     Route: 064
  438. PHTHALYLSULFATHIAZOLE [Concomitant]
     Active Substance: PHTHALYLSULFATHIAZOLE
     Route: 064
  439. HYDROXYCHLOROQUINE DIPHOSPHATE [Concomitant]
     Active Substance: HYDROXYCHLOROQUINE DIPHOSPHATE
     Indication: Product used for unknown indication
     Route: 064
  440. HYDROXYCHLOROQUINE DIPHOSPHATE [Concomitant]
     Active Substance: HYDROXYCHLOROQUINE DIPHOSPHATE
     Route: 064
  441. HYDROXYCHLOROQUINE DIPHOSPHATE [Concomitant]
     Active Substance: HYDROXYCHLOROQUINE DIPHOSPHATE
     Route: 064
  442. HYDROXYCHLOROQUINE DIPHOSPHATE [Concomitant]
     Active Substance: HYDROXYCHLOROQUINE DIPHOSPHATE
     Route: 064
  443. HYDROXYCHLOROQUINE DIPHOSPHATE [Concomitant]
     Active Substance: HYDROXYCHLOROQUINE DIPHOSPHATE
     Route: 064
  444. HYDROXYCHLOROQUINE DIPHOSPHATE [Concomitant]
     Active Substance: HYDROXYCHLOROQUINE DIPHOSPHATE
     Route: 064
  445. HYDROXYCHLOROQUINE DIPHOSPHATE [Concomitant]
     Active Substance: HYDROXYCHLOROQUINE DIPHOSPHATE
     Route: 064
  446. PREDNISONE [Concomitant]
     Active Substance: PREDNISONE
     Indication: Product used for unknown indication
     Route: 064
  447. PREDNISONE [Concomitant]
     Active Substance: PREDNISONE
     Route: 064
  448. PREDNISONE [Concomitant]
     Active Substance: PREDNISONE
     Route: 064
  449. PREDNISONE [Concomitant]
     Active Substance: PREDNISONE
     Dosage: 365 DAYS
     Route: 064
  450. PREDNISONE [Concomitant]
     Active Substance: PREDNISONE
     Route: 064
  451. PREDNISONE [Concomitant]
     Active Substance: PREDNISONE
     Route: 064
  452. PREDNISONE [Concomitant]
     Active Substance: PREDNISONE
     Route: 064
  453. PREDNISONE [Concomitant]
     Active Substance: PREDNISONE
     Route: 064
  454. PREDNISONE [Concomitant]
     Active Substance: PREDNISONE
     Route: 064
  455. PREDNISONE [Concomitant]
     Active Substance: PREDNISONE
     Route: 064
  456. PREDNISONE [Concomitant]
     Active Substance: PREDNISONE
     Route: 064
  457. PREDNISONE [Concomitant]
     Active Substance: PREDNISONE
     Route: 064
  458. PREDNISONE [Concomitant]
     Active Substance: PREDNISONE
     Route: 064
  459. PREDNISONE [Concomitant]
     Active Substance: PREDNISONE
     Route: 064
  460. PREDNISONE [Concomitant]
     Active Substance: PREDNISONE
     Route: 064
  461. PREDNISONE [Concomitant]
     Active Substance: PREDNISONE
     Route: 064
  462. PREDNISONE [Concomitant]
     Active Substance: PREDNISONE
     Route: 064
  463. PREDNISONE [Concomitant]
     Active Substance: PREDNISONE
     Route: 064
  464. PREDNISONE [Concomitant]
     Active Substance: PREDNISONE
     Route: 064
  465. PREDNISONE [Concomitant]
     Active Substance: PREDNISONE
     Route: 064
  466. PREDNISONE [Concomitant]
     Active Substance: PREDNISONE
     Route: 064
  467. PREDNISONE [Concomitant]
     Active Substance: PREDNISONE
     Route: 064
  468. PREDNISONE [Concomitant]
     Active Substance: PREDNISONE
     Route: 064
  469. PREDNISONE [Concomitant]
     Active Substance: PREDNISONE
     Route: 064
  470. PSEUDOEPHEDRINE\TRIPROLIDINE [Concomitant]
     Active Substance: PSEUDOEPHEDRINE\TRIPROLIDINE
     Indication: Product used for unknown indication
     Route: 064
  471. PSEUDOEPHEDRINE\TRIPROLIDINE [Concomitant]
     Active Substance: PSEUDOEPHEDRINE\TRIPROLIDINE
     Route: 064
  472. CETIRIZINE HYDROCHLORIDE [Concomitant]
     Active Substance: CETIRIZINE HYDROCHLORIDE
     Indication: Product used for unknown indication
     Route: 064
  473. CETIRIZINE HYDROCHLORIDE [Concomitant]
     Active Substance: CETIRIZINE HYDROCHLORIDE
     Route: 064
  474. CETIRIZINE HYDROCHLORIDE [Concomitant]
     Active Substance: CETIRIZINE HYDROCHLORIDE
     Route: 064
  475. CETIRIZINE HYDROCHLORIDE [Concomitant]
     Active Substance: CETIRIZINE HYDROCHLORIDE
     Route: 064
  476. CETIRIZINE HYDROCHLORIDE [Concomitant]
     Active Substance: CETIRIZINE HYDROCHLORIDE
     Route: 064
  477. CETIRIZINE HYDROCHLORIDE [Concomitant]
     Active Substance: CETIRIZINE HYDROCHLORIDE
     Route: 064
  478. REMICADE [Concomitant]
     Active Substance: INFLIXIMAB
     Indication: Product used for unknown indication
     Dosage: POWDER FOR SOLUTION INTRAVENOUS
     Route: 064
  479. REMICADE [Concomitant]
     Active Substance: INFLIXIMAB
     Route: 064
  480. REMICADE [Concomitant]
     Active Substance: INFLIXIMAB
     Route: 064
  481. REMICADE [Concomitant]
     Active Substance: INFLIXIMAB
     Route: 064
  482. REMICADE [Concomitant]
     Active Substance: INFLIXIMAB
     Dosage: POWDER FOR SOLUTION INTRAVENOUS
     Route: 064
  483. REMICADE [Concomitant]
     Active Substance: INFLIXIMAB
     Route: 064
  484. REMICADE [Concomitant]
     Active Substance: INFLIXIMAB
     Route: 064
  485. REMICADE [Concomitant]
     Active Substance: INFLIXIMAB
     Route: 064
  486. REMICADE [Concomitant]
     Active Substance: INFLIXIMAB
     Route: 064
  487. REMICADE [Concomitant]
     Active Substance: INFLIXIMAB
     Route: 064
  488. RITUXIMAB [Concomitant]
     Active Substance: RITUXIMAB
     Indication: Product used for unknown indication
     Route: 064
  489. RITUXIMAB [Concomitant]
     Active Substance: RITUXIMAB
     Route: 064
  490. RITUXIMAB [Concomitant]
     Active Substance: RITUXIMAB
     Route: 064
  491. RITUXIMAB [Concomitant]
     Active Substance: RITUXIMAB
     Route: 064
  492. RITUXIMAB [Concomitant]
     Active Substance: RITUXIMAB
     Route: 064
  493. RITUXIMAB [Concomitant]
     Active Substance: RITUXIMAB
     Route: 064
  494. RITUXIMAB [Concomitant]
     Active Substance: RITUXIMAB
     Route: 064
  495. RITUXIMAB [Concomitant]
     Active Substance: RITUXIMAB
     Route: 064
  496. RITUXIMAB [Concomitant]
     Active Substance: RITUXIMAB
     Route: 064
  497. SARILUMAB [Concomitant]
     Active Substance: SARILUMAB
     Indication: Product used for unknown indication
     Route: 064
  498. SIMPONI [Concomitant]
     Active Substance: GOLIMUMAB
     Indication: Product used for unknown indication
     Route: 064
  499. SIMPONI [Concomitant]
     Active Substance: GOLIMUMAB
     Route: 064
  500. SIMPONI [Concomitant]
     Active Substance: GOLIMUMAB
     Dosage: SOLUTION SUBCUTANEOUS
     Route: 064
  501. SIMPONI [Concomitant]
     Active Substance: GOLIMUMAB
     Route: 064
  502. SIMPONI [Concomitant]
     Active Substance: GOLIMUMAB
     Dosage: SOLUTION SUBCUTANEOUS
     Route: 064
  503. SIMPONI [Concomitant]
     Active Substance: GOLIMUMAB
     Dosage: SOLUTION SUBCUTANEOUS
     Route: 064
  504. SIMPONI [Concomitant]
     Active Substance: GOLIMUMAB
     Dosage: SOLUTION SUBCUTANEOUS
     Route: 064
  505. SIMPONI [Concomitant]
     Active Substance: GOLIMUMAB
     Route: 064
  506. SIMPONI [Concomitant]
     Active Substance: GOLIMUMAB
     Dosage: SOLUTION SUBCUTANEOUS
     Route: 064
  507. SIMPONI [Concomitant]
     Active Substance: GOLIMUMAB
     Route: 064
  508. SIMPONI [Concomitant]
     Active Substance: GOLIMUMAB
     Route: 064
  509. STELARA [Concomitant]
     Active Substance: USTEKINUMAB
     Indication: Product used for unknown indication
     Dosage: SOLUTION SUBCUTANEOUS
     Route: 064
  510. STELARA [Concomitant]
     Active Substance: USTEKINUMAB
     Route: 064
  511. STELARA [Concomitant]
     Active Substance: USTEKINUMAB
     Route: 064
  512. STELARA [Concomitant]
     Active Substance: USTEKINUMAB
     Route: 064
  513. STELARA [Concomitant]
     Active Substance: USTEKINUMAB
     Route: 064
  514. STELARA [Concomitant]
     Active Substance: USTEKINUMAB
     Route: 064
  515. SULFAMETHOXAZOLE [Concomitant]
     Active Substance: SULFAMETHOXAZOLE
     Indication: Product used for unknown indication
     Route: 064
  516. SULFAMETHOXAZOLE AND TRIMETHOPRIM [Concomitant]
     Active Substance: SULFAMETHOXAZOLE\TRIMETHOPRIM
     Indication: Product used for unknown indication
     Route: 064
  517. SULFASALAZINE [Concomitant]
     Active Substance: SULFASALAZINE
     Indication: Product used for unknown indication
     Route: 064
  518. SULFASALAZINE [Concomitant]
     Active Substance: SULFASALAZINE
     Route: 064
  519. SULFASALAZINE [Concomitant]
     Active Substance: SULFASALAZINE
     Route: 064
  520. SULFASALAZINE [Concomitant]
     Active Substance: SULFASALAZINE
     Route: 064
  521. SULFASALAZINE [Concomitant]
     Active Substance: SULFASALAZINE
     Route: 064
  522. SULFASALAZINE [Concomitant]
     Active Substance: SULFASALAZINE
     Route: 064
  523. SULFASALAZINE [Concomitant]
     Active Substance: SULFASALAZINE
     Route: 064
  524. SULFASALAZINE [Concomitant]
     Active Substance: SULFASALAZINE
     Route: 064
  525. SULFASALAZINE [Concomitant]
     Active Substance: SULFASALAZINE
     Route: 064
  526. SULFASALAZINE [Concomitant]
     Active Substance: SULFASALAZINE
     Route: 064
  527. SULFASALAZINE [Concomitant]
     Active Substance: SULFASALAZINE
     Route: 064
  528. SULFASALAZINE [Concomitant]
     Active Substance: SULFASALAZINE
     Route: 064
  529. SULFASALAZINE [Concomitant]
     Active Substance: SULFASALAZINE
     Route: 064
  530. SULFASALAZINE [Concomitant]
     Active Substance: SULFASALAZINE
     Route: 064
  531. SULFASALAZINE [Concomitant]
     Active Substance: SULFASALAZINE
     Route: 064
  532. SULFASALAZINE [Concomitant]
     Active Substance: SULFASALAZINE
     Route: 064
  533. SULFASALAZINE [Concomitant]
     Active Substance: SULFASALAZINE
     Route: 064
  534. SULFASALAZINE [Concomitant]
     Active Substance: SULFASALAZINE
     Route: 064
  535. SULFASALAZINE [Concomitant]
     Active Substance: SULFASALAZINE
     Route: 064
  536. SULFASALAZINE [Concomitant]
     Active Substance: SULFASALAZINE
     Route: 064
  537. SULFASALAZINE [Concomitant]
     Active Substance: SULFASALAZINE
     Route: 064
  538. SULFASALAZINE [Concomitant]
     Active Substance: SULFASALAZINE
     Route: 064
  539. SULFASALAZINE [Concomitant]
     Active Substance: SULFASALAZINE
     Route: 064
  540. SULFASALAZINE [Concomitant]
     Active Substance: SULFASALAZINE
     Route: 064
  541. SULFASALAZINE [Concomitant]
     Active Substance: SULFASALAZINE
     Route: 064
  542. SULFASALAZINE [Concomitant]
     Active Substance: SULFASALAZINE
     Route: 064
  543. SULFASALAZINE [Concomitant]
     Active Substance: SULFASALAZINE
     Route: 064
  544. SULFASALAZINE [Concomitant]
     Active Substance: SULFASALAZINE
     Route: 064
  545. SULFASALAZINE [Concomitant]
     Active Substance: SULFASALAZINE
     Route: 064
  546. SULFASALAZINE [Concomitant]
     Active Substance: SULFASALAZINE
     Route: 064
  547. SULFASALAZINE [Concomitant]
     Active Substance: SULFASALAZINE
     Route: 064
  548. SULFASALAZINE [Concomitant]
     Active Substance: SULFASALAZINE
     Route: 064
  549. SULFASALAZINE [Concomitant]
     Active Substance: SULFASALAZINE
     Route: 064
  550. SULFASALAZINE [Concomitant]
     Active Substance: SULFASALAZINE
     Dosage: SOLUTION SUBCUTANEOUS
     Route: 064
  551. SULFASALAZINE [Concomitant]
     Active Substance: SULFASALAZINE
     Route: 064
  552. SULFASALAZINE [Concomitant]
     Active Substance: SULFASALAZINE
     Route: 064
  553. SULFASALAZINE [Concomitant]
     Active Substance: SULFASALAZINE
     Route: 064
  554. SULFASALAZINE [Concomitant]
     Active Substance: SULFASALAZINE
     Route: 064
  555. SULFASALAZINE [Concomitant]
     Active Substance: SULFASALAZINE
     Route: 064
  556. SULFASALAZINE [Concomitant]
     Active Substance: SULFASALAZINE
     Route: 064
  557. SULFASALAZINE [Concomitant]
     Active Substance: SULFASALAZINE
     Route: 064
  558. SULFASALAZINE [Concomitant]
     Active Substance: SULFASALAZINE
     Route: 064
  559. SULFASALAZINE [Concomitant]
     Active Substance: SULFASALAZINE
     Route: 064
  560. SULFASALAZINE [Concomitant]
     Active Substance: SULFASALAZINE
     Route: 064
  561. SULFASALAZINE [Concomitant]
     Active Substance: SULFASALAZINE
     Route: 064
  562. SULFASALAZINE [Concomitant]
     Active Substance: SULFASALAZINE
     Route: 064
  563. SULFASALAZINE [Concomitant]
     Active Substance: SULFASALAZINE
     Route: 064
  564. SULFASALAZINE [Concomitant]
     Active Substance: SULFASALAZINE
     Route: 064
  565. SULFASALAZINE [Concomitant]
     Active Substance: SULFASALAZINE
     Route: 064
  566. SULFASALAZINE [Concomitant]
     Active Substance: SULFASALAZINE
     Route: 064
  567. SULFASALAZINE [Concomitant]
     Active Substance: SULFASALAZINE
     Route: 064
  568. SULFASALAZINE [Concomitant]
     Active Substance: SULFASALAZINE
     Route: 064
  569. SULFASALAZINE [Concomitant]
     Active Substance: SULFASALAZINE
     Route: 064
  570. SULFASALAZINE [Concomitant]
     Active Substance: SULFASALAZINE
     Route: 064
  571. SULFASALAZINE [Concomitant]
     Active Substance: SULFASALAZINE
     Route: 064
  572. SULFASALAZINE [Concomitant]
     Active Substance: SULFASALAZINE
     Route: 064
  573. SULFASALAZINE [Concomitant]
     Active Substance: SULFASALAZINE
     Route: 064
  574. SULFASALAZINE [Concomitant]
     Active Substance: SULFASALAZINE
     Route: 064
  575. SULFASALAZINE [Concomitant]
     Active Substance: SULFASALAZINE
     Route: 064
  576. SULFASALAZINE [Concomitant]
     Active Substance: SULFASALAZINE
     Route: 064
  577. TOPICORT [Concomitant]
     Active Substance: DESOXIMETASONE
     Indication: Product used for unknown indication
     Route: 064
  578. TOPICORT [Concomitant]
     Active Substance: DESOXIMETASONE
     Route: 064
  579. TOPICORT [Concomitant]
     Active Substance: DESOXIMETASONE
     Route: 064
  580. TOPICORT [Concomitant]
     Active Substance: DESOXIMETASONE
     Route: 064
  581. TOPICORT [Concomitant]
     Active Substance: DESOXIMETASONE
     Route: 064
  582. TOPICORT [Concomitant]
     Active Substance: DESOXIMETASONE
     Route: 064
  583. TOPICORT [Concomitant]
     Active Substance: DESOXIMETASONE
     Route: 064
  584. TOPICORT [Concomitant]
     Active Substance: DESOXIMETASONE
     Route: 064
  585. XELJANZ [Concomitant]
     Active Substance: TOFACITINIB CITRATE
     Indication: Product used for unknown indication
     Route: 064
  586. XELJANZ [Concomitant]
     Active Substance: TOFACITINIB CITRATE
     Route: 064
  587. XELJANZ [Concomitant]
     Active Substance: TOFACITINIB CITRATE
     Route: 064
  588. XELJANZ [Concomitant]
     Active Substance: TOFACITINIB CITRATE
     Route: 064
  589. XELJANZ [Concomitant]
     Active Substance: TOFACITINIB CITRATE
     Route: 064
  590. XELJANZ [Concomitant]
     Active Substance: TOFACITINIB CITRATE
     Route: 064
  591. XELJANZ [Concomitant]
     Active Substance: TOFACITINIB CITRATE
     Route: 064
  592. XELJANZ [Concomitant]
     Active Substance: TOFACITINIB CITRATE
     Route: 064
  593. XELJANZ [Concomitant]
     Active Substance: TOFACITINIB CITRATE
     Route: 064
  594. XELJANZ [Concomitant]
     Active Substance: TOFACITINIB CITRATE
     Route: 064
  595. XELJANZ [Concomitant]
     Active Substance: TOFACITINIB CITRATE
     Route: 064
  596. XELJANZ [Concomitant]
     Active Substance: TOFACITINIB CITRATE
     Route: 064
  597. XELJANZ [Concomitant]
     Active Substance: TOFACITINIB CITRATE
     Route: 064
  598. XELJANZ [Concomitant]
     Active Substance: TOFACITINIB CITRATE
     Route: 064
  599. XELJANZ [Concomitant]
     Active Substance: TOFACITINIB CITRATE
     Route: 064
  600. XELJANZ [Concomitant]
     Active Substance: TOFACITINIB CITRATE
     Route: 064
  601. XELJANZ [Concomitant]
     Active Substance: TOFACITINIB CITRATE
     Route: 064
  602. XELJANZ [Concomitant]
     Active Substance: TOFACITINIB CITRATE
     Route: 064
  603. XELJANZ [Concomitant]
     Active Substance: TOFACITINIB CITRATE
     Route: 064
  604. XELJANZ [Concomitant]
     Active Substance: TOFACITINIB CITRATE
     Route: 064
  605. XELJANZ [Concomitant]
     Active Substance: TOFACITINIB CITRATE
     Route: 064
  606. XELJANZ [Concomitant]
     Active Substance: TOFACITINIB CITRATE
     Route: 064
  607. XELJANZ [Concomitant]
     Active Substance: TOFACITINIB CITRATE
     Route: 064
  608. XELJANZ [Concomitant]
     Active Substance: TOFACITINIB CITRATE
     Route: 064
  609. XELJANZ [Concomitant]
     Active Substance: TOFACITINIB CITRATE
     Route: 064
  610. ACETAMINOPHEN [Concomitant]
     Active Substance: ACETAMINOPHEN
     Indication: Product used for unknown indication
     Route: 064
  611. ACETAMINOPHEN [Concomitant]
     Active Substance: ACETAMINOPHEN
     Route: 064
  612. ACETAMINOPHEN [Concomitant]
     Active Substance: ACETAMINOPHEN
     Route: 064
  613. ACETAMINOPHEN [Concomitant]
     Active Substance: ACETAMINOPHEN
     Route: 064
  614. ACETAMINOPHEN [Concomitant]
     Active Substance: ACETAMINOPHEN
     Route: 064
  615. CAFFEINE CITRATE [Concomitant]
     Active Substance: CAFFEINE CITRATE
     Indication: Product used for unknown indication
     Route: 064
  616. CHOLECALCIFEROL [Concomitant]
     Active Substance: CHOLECALCIFEROL
     Indication: Product used for unknown indication
     Route: 064
  617. CHOLECALCIFEROL [Concomitant]
     Active Substance: CHOLECALCIFEROL
     Route: 064
  618. CHOLECALCIFEROL [Concomitant]
     Active Substance: CHOLECALCIFEROL
     Route: 064
  619. DESOGESTREL\ETHINYL ESTRADIOL [Concomitant]
     Active Substance: DESOGESTREL\ETHINYL ESTRADIOL
     Indication: Product used for unknown indication
     Route: 064
  620. IBUPROFEN [Concomitant]
     Active Substance: IBUPROFEN
     Indication: Product used for unknown indication
     Route: 064
  621. PANTOPRAZOLE SODIUM [Concomitant]
     Active Substance: PANTOPRAZOLE SODIUM
     Indication: Product used for unknown indication
     Route: 064
  622. PANTOPRAZOLE [Concomitant]
     Active Substance: PANTOPRAZOLE
     Indication: Product used for unknown indication
     Route: 064
  623. PANTOPRAZOLE [Concomitant]
     Active Substance: PANTOPRAZOLE
     Route: 064
  624. SULFASALAZINE [Concomitant]
     Active Substance: SULFASALAZINE
     Indication: Product used for unknown indication
     Route: 064
  625. SULFASALAZINE [Concomitant]
     Active Substance: SULFASALAZINE
     Route: 064
  626. SULFASALAZINE [Concomitant]
     Active Substance: SULFASALAZINE
     Route: 064
  627. SULFASALAZINE [Concomitant]
     Active Substance: SULFASALAZINE
     Route: 064
  628. SULFASALAZINE [Concomitant]
     Active Substance: SULFASALAZINE
     Route: 064
  629. TYLENOL [Concomitant]
     Active Substance: ACETAMINOPHEN
     Indication: Product used for unknown indication
     Route: 064
  630. ZESTRIL [Concomitant]
     Active Substance: LISINOPRIL
     Indication: Product used for unknown indication
     Route: 064
  631. CORTISONE [Concomitant]
     Active Substance: CORTISONE
     Indication: Product used for unknown indication
     Route: 064
  632. CORTISONE [Concomitant]
     Active Substance: CORTISONE
     Route: 064
  633. CORTISONE [Concomitant]
     Active Substance: CORTISONE
     Route: 064
  634. CORTISONE [Concomitant]
     Active Substance: CORTISONE
     Route: 064
  635. CORTISONE [Concomitant]
     Active Substance: CORTISONE
     Route: 064
  636. CORTISONE [Concomitant]
     Active Substance: CORTISONE
     Route: 064
  637. CORTISONE [Concomitant]
     Active Substance: CORTISONE
     Route: 064
  638. CORTISONE [Concomitant]
     Active Substance: CORTISONE
     Route: 064
  639. CORTISONE [Concomitant]
     Active Substance: CORTISONE
     Route: 064
  640. CORTISONE ACETATE [Concomitant]
     Active Substance: CORTISONE ACETATE
     Indication: Product used for unknown indication
     Route: 064
  641. CORTISONE ACETATE [Concomitant]
     Active Substance: CORTISONE ACETATE
     Route: 064
  642. CORTISONE ACETATE [Concomitant]
     Active Substance: CORTISONE ACETATE
     Route: 064
  643. CORTISONE ACETATE [Concomitant]
     Active Substance: CORTISONE ACETATE
     Route: 064
  644. CORTISONE ACETATE [Concomitant]
     Active Substance: CORTISONE ACETATE
     Route: 064
  645. CORTISONE ACETATE [Concomitant]
     Active Substance: CORTISONE ACETATE
     Route: 064
  646. CORTISONE ACETATE [Concomitant]
     Active Substance: CORTISONE ACETATE
     Route: 064
  647. CORTISONE ACETATE [Concomitant]
     Active Substance: CORTISONE ACETATE
     Route: 064
  648. CORTISONE ACETATE [Concomitant]
     Active Substance: CORTISONE ACETATE
     Route: 064
  649. CORTISONE ACETATE [Concomitant]
     Active Substance: CORTISONE ACETATE
     Route: 064
  650. CORTISONE ACETATE [Concomitant]
     Active Substance: CORTISONE ACETATE
     Route: 064
  651. CORTISONE ACETATE [Concomitant]
     Active Substance: CORTISONE ACETATE
     Route: 064
  652. DICLOFENAC SODIUM [Concomitant]
     Active Substance: DICLOFENAC SODIUM
     Indication: Product used for unknown indication
     Route: 064
  653. DICLOFENAC SODIUM [Concomitant]
     Active Substance: DICLOFENAC SODIUM
     Route: 064
  654. DICLOFENAC SODIUM [Concomitant]
     Active Substance: DICLOFENAC SODIUM
     Route: 064
  655. DICLOFENAC SODIUM [Concomitant]
     Active Substance: DICLOFENAC SODIUM
     Route: 064
  656. DICLOFENAC SODIUM [Concomitant]
     Active Substance: DICLOFENAC SODIUM
     Route: 064
  657. DICLOFENAC SODIUM [Concomitant]
     Active Substance: DICLOFENAC SODIUM
     Route: 064
  658. ATIVAN [Concomitant]
     Active Substance: LORAZEPAM
     Indication: Product used for unknown indication
     Route: 064
  659. AZATHIOPRINE [Concomitant]
     Active Substance: AZATHIOPRINE
     Indication: Product used for unknown indication
     Route: 064
  660. CAFFEINE [Concomitant]
     Active Substance: CAFFEINE
     Indication: Product used for unknown indication
     Route: 064
  661. CALCIUM CARBONATE [Concomitant]
     Active Substance: CALCIUM CARBONATE
     Indication: Product used for unknown indication
     Route: 064
  662. CALCIUM GLUBIONATE [Concomitant]
     Active Substance: CALCIUM GLUBIONATE
     Indication: Product used for unknown indication
     Route: 064
  663. CALCIUM GLUBIONATE [Concomitant]
     Active Substance: CALCIUM GLUBIONATE
     Route: 064
  664. CALCIUM GLUCONATE [Concomitant]
     Active Substance: CALCIUM GLUCONATE
     Indication: Product used for unknown indication
     Route: 064
  665. CELEBREX [Concomitant]
     Active Substance: CELECOXIB
     Indication: Product used for unknown indication
     Route: 064
  666. CELEBREX [Concomitant]
     Active Substance: CELECOXIB
     Route: 064
  667. CELEBREX [Concomitant]
     Active Substance: CELECOXIB
     Route: 064
  668. CELEBREX [Concomitant]
     Active Substance: CELECOXIB
     Route: 064
  669. CELEBREX [Concomitant]
     Active Substance: CELECOXIB
     Route: 064
  670. CELEBREX [Concomitant]
     Active Substance: CELECOXIB
     Route: 064
  671. CELEBREX [Concomitant]
     Active Substance: CELECOXIB
     Route: 064
  672. CHLORAPREP [Concomitant]
     Active Substance: CHLORHEXIDINE GLUCONATE\ISOPROPYL ALCOHOL
     Indication: Product used for unknown indication
     Route: 064
  673. CHLORAPREP [Concomitant]
     Active Substance: CHLORHEXIDINE GLUCONATE\ISOPROPYL ALCOHOL
     Route: 064
  674. CHLORAPREP [Concomitant]
     Active Substance: CHLORHEXIDINE GLUCONATE\ISOPROPYL ALCOHOL
     Route: 064
  675. CHLORHEXIDINE GLUCONATE\ISOPROPYL ALCOHOL [Concomitant]
     Active Substance: CHLORHEXIDINE GLUCONATE\ISOPROPYL ALCOHOL
     Indication: Product used for unknown indication
     Route: 064
  676. CHLORHEXIDINE GLUCONATE\ISOPROPYL ALCOHOL [Concomitant]
     Active Substance: CHLORHEXIDINE GLUCONATE\ISOPROPYL ALCOHOL
     Route: 064
  677. CODEINE [Concomitant]
     Active Substance: CODEINE
     Indication: Product used for unknown indication
     Route: 064
  678. CORTISONE (HYDROCORTISONE) [Concomitant]
     Active Substance: HYDROCORTISONE
     Indication: Product used for unknown indication
     Route: 064
  679. CORTISONE (HYDROCORTISONE) [Concomitant]
     Active Substance: HYDROCORTISONE
     Route: 064
  680. CORTISONE (HYDROCORTISONE) [Concomitant]
     Active Substance: HYDROCORTISONE
     Route: 064
  681. CORTISONE (HYDROCORTISONE) [Concomitant]
     Active Substance: HYDROCORTISONE
     Route: 064
  682. CORTISONE (HYDROCORTISONE) [Concomitant]
     Active Substance: HYDROCORTISONE
     Route: 064
  683. CORTISONE (HYDROCORTISONE) [Concomitant]
     Active Substance: HYDROCORTISONE
     Route: 064
  684. COSENTYX [Concomitant]
     Active Substance: SECUKINUMAB
     Indication: Product used for unknown indication
     Route: 064
  685. COSENTYX [Concomitant]
     Active Substance: SECUKINUMAB
     Route: 064
  686. COSENTYX [Concomitant]
     Active Substance: SECUKINUMAB
     Route: 064
  687. COSENTYX [Concomitant]
     Active Substance: SECUKINUMAB
     Route: 064
  688. COSENTYX [Concomitant]
     Active Substance: SECUKINUMAB
     Route: 064
  689. DEXAMETHASONE [Concomitant]
     Active Substance: DEXAMETHASONE
     Indication: Product used for unknown indication
     Route: 064
  690. DEXAMETHASONE [Concomitant]
     Active Substance: DEXAMETHASONE
     Route: 064
  691. DEXAMETHASONE [Concomitant]
     Active Substance: DEXAMETHASONE
     Route: 064
  692. DEXAMETHASONE [Concomitant]
     Active Substance: DEXAMETHASONE
     Route: 064
  693. DEXAMETHASONE [Concomitant]
     Active Substance: DEXAMETHASONE
     Route: 064
  694. DEXAMETHASONE [Concomitant]
     Active Substance: DEXAMETHASONE
     Route: 064
  695. DEXAMETHASONE [Concomitant]
     Active Substance: DEXAMETHASONE
     Route: 064
  696. DOXYCYCLINE HYCLATE [Concomitant]
     Active Substance: DOXYCYCLINE HYCLATE
     Indication: Product used for unknown indication
     Route: 064
  697. ERELZI [Concomitant]
     Active Substance: ETANERCEPT-SZZS
     Indication: Product used for unknown indication
     Route: 064
  698. ERELZI [Concomitant]
     Active Substance: ETANERCEPT-SZZS
     Route: 064
  699. ERELZI [Concomitant]
     Active Substance: ETANERCEPT-SZZS
     Route: 064
  700. ERELZI [Concomitant]
     Active Substance: ETANERCEPT-SZZS
     Route: 064
  701. ERGOCALCIFEROL [Concomitant]
     Active Substance: ERGOCALCIFEROL
     Indication: Product used for unknown indication
     Route: 064
  702. ERGOCALCIFEROL [Concomitant]
     Active Substance: ERGOCALCIFEROL
     Route: 064
  703. ERYTHROMYCIN [Concomitant]
     Active Substance: ERYTHROMYCIN
     Indication: Product used for unknown indication
     Route: 064
  704. ETHINYL ESTRADIOL\NORETHINDRONE [Concomitant]
     Active Substance: ETHINYL ESTRADIOL\NORETHINDRONE
     Indication: Product used for unknown indication
     Route: 064
  705. FLUMETHASONE PIVALATE [Concomitant]
     Active Substance: FLUMETHASONE PIVALATE
     Indication: Product used for unknown indication
     Route: 064
  706. FLUMETHASONE PIVALATE [Concomitant]
     Active Substance: FLUMETHASONE PIVALATE
     Route: 064
  707. FLUMETHASONE PIVALATE [Concomitant]
     Active Substance: FLUMETHASONE PIVALATE
     Route: 064
  708. FLUMETHASONE PIVALATE [Concomitant]
     Active Substance: FLUMETHASONE PIVALATE
     Route: 064
  709. FLUMETHASONE PIVALATE [Concomitant]
     Active Substance: FLUMETHASONE PIVALATE
     Route: 064
  710. FLUMETHASONE PIVALATE [Concomitant]
     Active Substance: FLUMETHASONE PIVALATE
     Route: 064
  711. GLUCOSAMINE [Concomitant]
     Active Substance: GLUCOSAMINE
     Indication: Product used for unknown indication
     Route: 064
  712. HYDROCORTISONE [Concomitant]
     Active Substance: HYDROCORTISONE
     Indication: Product used for unknown indication
     Route: 064
  713. HYDROCORTISONE [Concomitant]
     Active Substance: HYDROCORTISONE
     Route: 064
  714. HYDROCORTISONE [Concomitant]
     Active Substance: HYDROCORTISONE
     Route: 064
  715. HYDROCORTISONE [Concomitant]
     Active Substance: HYDROCORTISONE
     Route: 064
  716. HYDROCORTISONE [Concomitant]
     Active Substance: HYDROCORTISONE
     Route: 064
  717. HYDROCORTISONE [Concomitant]
     Active Substance: HYDROCORTISONE
     Route: 064
  718. HYDROXYCHLOROQUINE SULFATE [Concomitant]
     Active Substance: HYDROXYCHLOROQUINE SULFATE
     Indication: Product used for unknown indication
     Route: 064
  719. HYDROXYCHLOROQUINE SULFATE [Concomitant]
     Active Substance: HYDROXYCHLOROQUINE SULFATE
     Route: 064
  720. HYDROXYCHLOROQUINE SULFATE [Concomitant]
     Active Substance: HYDROXYCHLOROQUINE SULFATE
     Route: 064
  721. HYDROXYCHLOROQUINE SULFATE [Concomitant]
     Active Substance: HYDROXYCHLOROQUINE SULFATE
     Route: 064
  722. HYDROXYCHLOROQUINE SULFATE [Concomitant]
     Active Substance: HYDROXYCHLOROQUINE SULFATE
     Route: 064
  723. HYDROXYCHLOROQUINE SULFATE [Concomitant]
     Active Substance: HYDROXYCHLOROQUINE SULFATE
     Route: 064
  724. HYDROXYCHLOROQUINE SULFATE [Concomitant]
     Active Substance: HYDROXYCHLOROQUINE SULFATE
     Route: 064
  725. HYDROXYCHLOROQUINE SULFATE [Concomitant]
     Active Substance: HYDROXYCHLOROQUINE SULFATE
     Route: 064
  726. HYDROXYCHLOROQUINE SULFATE [Concomitant]
     Active Substance: HYDROXYCHLOROQUINE SULFATE
     Route: 064
  727. HYDROXYCHLOROQUINE SULFATE [Concomitant]
     Active Substance: HYDROXYCHLOROQUINE SULFATE
     Route: 064
  728. HYDROXYCHLOROQUINE SULFATE [Concomitant]
     Active Substance: HYDROXYCHLOROQUINE SULFATE
     Route: 064
  729. HYDROXYCHLOROQUINE SULFATE [Concomitant]
     Active Substance: HYDROXYCHLOROQUINE SULFATE
     Route: 064
  730. HYDROXYCHLOROQUINE SULFATE [Concomitant]
     Active Substance: HYDROXYCHLOROQUINE SULFATE
     Route: 064
  731. HYDROXYCHLOROQUINE SULFATE [Concomitant]
     Active Substance: HYDROXYCHLOROQUINE SULFATE
     Route: 064
  732. HYDROXYCHLOROQUINE SULFATE [Concomitant]
     Active Substance: HYDROXYCHLOROQUINE SULFATE
     Route: 064
  733. HYDROXYCHLOROQUINE SULFATE [Concomitant]
     Active Substance: HYDROXYCHLOROQUINE SULFATE
     Route: 064
  734. HYDROXYCHLOROQUINE SULFATE [Concomitant]
     Active Substance: HYDROXYCHLOROQUINE SULFATE
     Route: 064
  735. HYDROXYCHLOROQUINE SULFATE [Concomitant]
     Active Substance: HYDROXYCHLOROQUINE SULFATE
     Route: 064
  736. HYDROXYCHLOROQUINE SULFATE [Concomitant]
     Active Substance: HYDROXYCHLOROQUINE SULFATE
     Route: 064
  737. HYDROXYCHLOROQUINE SULFATE [Concomitant]
     Active Substance: HYDROXYCHLOROQUINE SULFATE
     Route: 064
  738. HYDROXYCHLOROQUINE SULFATE [Concomitant]
     Active Substance: HYDROXYCHLOROQUINE SULFATE
     Route: 064
  739. HYDROXYCHLOROQUINE SULFATE [Concomitant]
     Active Substance: HYDROXYCHLOROQUINE SULFATE
     Route: 064
  740. HYDROXYCHLOROQUINE SULFATE [Concomitant]
     Active Substance: HYDROXYCHLOROQUINE SULFATE
     Route: 064
  741. LANSOPRAZOLE [Concomitant]
     Active Substance: LANSOPRAZOLE
     Indication: Product used for unknown indication
     Route: 064
  742. LEVOTHYROXINE SODIUM [Concomitant]
     Active Substance: LEVOTHYROXINE SODIUM
     Indication: Product used for unknown indication
     Route: 064
  743. LISINOPRIL [Concomitant]
     Active Substance: LISINOPRIL
     Indication: Product used for unknown indication
     Route: 064
  744. LISINOPRIL [Concomitant]
     Active Substance: LISINOPRIL
     Indication: Product used for unknown indication
     Route: 064
  745. LYRICA [Concomitant]
     Active Substance: PREGABALIN
     Indication: Product used for unknown indication
     Route: 064
  746. MAGNESIUM [Concomitant]
     Active Substance: MAGNESIUM
     Indication: Product used for unknown indication
     Route: 064
  747. MAGNESIUM [Concomitant]
     Active Substance: MAGNESIUM
     Route: 064
  748. MARVELON [Concomitant]
     Active Substance: DESOGESTREL\ETHINYL ESTRADIOL
     Indication: Product used for unknown indication
     Route: 064
  749. MELOXICAM [Concomitant]
     Active Substance: MELOXICAM
     Indication: Product used for unknown indication
     Route: 064
  750. MORPHINE [Concomitant]
     Active Substance: MORPHINE
     Indication: Product used for unknown indication
     Route: 064
  751. MYCOPHENOLATE MOFETIL [Concomitant]
     Active Substance: MYCOPHENOLATE MOFETIL
     Indication: Product used for unknown indication
     Route: 064
  752. NAPROXEN SODIUM [Concomitant]
     Active Substance: NAPROXEN SODIUM
     Indication: Product used for unknown indication
     Route: 064
  753. NAPROXEN SODIUM [Concomitant]
     Active Substance: NAPROXEN SODIUM
     Route: 064
  754. NAPROXEN SODIUM [Concomitant]
     Active Substance: NAPROXEN SODIUM
     Route: 064
  755. OTEZLA [Concomitant]
     Active Substance: APREMILAST
     Indication: Product used for unknown indication
     Route: 064
  756. OTEZLA [Concomitant]
     Active Substance: APREMILAST
     Route: 064
  757. OTEZLA [Concomitant]
     Active Substance: APREMILAST
     Route: 064
  758. OTEZLA [Concomitant]
     Active Substance: APREMILAST
     Route: 064
  759. OTEZLA [Concomitant]
     Active Substance: APREMILAST
     Route: 064
  760. OTEZLA [Concomitant]
     Active Substance: APREMILAST
     Route: 064
  761. OTEZLA [Concomitant]
     Active Substance: APREMILAST
     Route: 064
  762. OTEZLA [Concomitant]
     Active Substance: APREMILAST
     Route: 064
  763. OTEZLA [Concomitant]
     Active Substance: APREMILAST
     Route: 064
  764. OTEZLA [Concomitant]
     Active Substance: APREMILAST
     Route: 064
  765. OTEZLA [Concomitant]
     Active Substance: APREMILAST
     Route: 064
  766. OTEZLA [Concomitant]
     Active Substance: APREMILAST
     Route: 064
  767. OTEZLA [Concomitant]
     Active Substance: APREMILAST
     Route: 064
  768. PIROXICAM [Concomitant]
     Active Substance: PIROXICAM
     Indication: Product used for unknown indication
     Route: 064
  769. PREDNISOLONE [Concomitant]
     Active Substance: PREDNISOLONE
     Indication: Product used for unknown indication
     Route: 064
  770. QUETIAPINE FUMARATE [Concomitant]
     Active Substance: QUETIAPINE FUMARATE
     Indication: Product used for unknown indication
     Route: 064
  771. RAMIPRIL [Concomitant]
     Active Substance: RAMIPRIL
     Indication: Product used for unknown indication
     Route: 064
  772. RAMIPRIL [Concomitant]
     Active Substance: RAMIPRIL
     Route: 064
  773. RAMIPRIL [Concomitant]
     Active Substance: RAMIPRIL
     Route: 064
  774. CETIRIZINE HYDROCHLORIDE\PSEUDOEPHEDRINE HYDROCHLORIDE [Concomitant]
     Active Substance: CETIRIZINE HYDROCHLORIDE\PSEUDOEPHEDRINE HYDROCHLORIDE
     Indication: Product used for unknown indication
     Dosage: TABLET (EXTENDED-RELEASE)
     Route: 064
  775. CETIRIZINE HYDROCHLORIDE\PSEUDOEPHEDRINE HYDROCHLORIDE [Concomitant]
     Active Substance: CETIRIZINE HYDROCHLORIDE\PSEUDOEPHEDRINE HYDROCHLORIDE
     Route: 064
  776. CETIRIZINE HYDROCHLORIDE\PSEUDOEPHEDRINE HYDROCHLORIDE [Concomitant]
     Active Substance: CETIRIZINE HYDROCHLORIDE\PSEUDOEPHEDRINE HYDROCHLORIDE
     Route: 064
  777. CETIRIZINE HYDROCHLORIDE\PSEUDOEPHEDRINE HYDROCHLORIDE [Concomitant]
     Active Substance: CETIRIZINE HYDROCHLORIDE\PSEUDOEPHEDRINE HYDROCHLORIDE
     Route: 064
  778. CETIRIZINE HYDROCHLORIDE\PSEUDOEPHEDRINE HYDROCHLORIDE [Concomitant]
     Active Substance: CETIRIZINE HYDROCHLORIDE\PSEUDOEPHEDRINE HYDROCHLORIDE
     Route: 064
  779. CETIRIZINE HYDROCHLORIDE\PSEUDOEPHEDRINE HYDROCHLORIDE [Concomitant]
     Active Substance: CETIRIZINE HYDROCHLORIDE\PSEUDOEPHEDRINE HYDROCHLORIDE
     Route: 064
  780. CETIRIZINE HYDROCHLORIDE\PSEUDOEPHEDRINE HYDROCHLORIDE [Concomitant]
     Active Substance: CETIRIZINE HYDROCHLORIDE\PSEUDOEPHEDRINE HYDROCHLORIDE
     Route: 064
  781. CETIRIZINE HYDROCHLORIDE\PSEUDOEPHEDRINE HYDROCHLORIDE [Concomitant]
     Active Substance: CETIRIZINE HYDROCHLORIDE\PSEUDOEPHEDRINE HYDROCHLORIDE
     Route: 064
  782. CETIRIZINE HYDROCHLORIDE\PSEUDOEPHEDRINE HYDROCHLORIDE [Concomitant]
     Active Substance: CETIRIZINE HYDROCHLORIDE\PSEUDOEPHEDRINE HYDROCHLORIDE
     Route: 064
  783. CETIRIZINE HYDROCHLORIDE\PSEUDOEPHEDRINE HYDROCHLORIDE [Concomitant]
     Active Substance: CETIRIZINE HYDROCHLORIDE\PSEUDOEPHEDRINE HYDROCHLORIDE
     Route: 064
  784. CETIRIZINE HYDROCHLORIDE\PSEUDOEPHEDRINE HYDROCHLORIDE [Concomitant]
     Active Substance: CETIRIZINE HYDROCHLORIDE\PSEUDOEPHEDRINE HYDROCHLORIDE
     Route: 064
  785. RISEDRONATE SODIUM [Concomitant]
     Active Substance: RISEDRONATE SODIUM
     Indication: Product used for unknown indication
     Route: 064
  786. DIETARY SUPPLEMENT\HERBALS [Concomitant]
     Active Substance: DIETARY SUPPLEMENT\HERBALS
     Indication: Product used for unknown indication
     Route: 064
  787. DIETARY SUPPLEMENT\HERBALS [Concomitant]
     Active Substance: DIETARY SUPPLEMENT\HERBALS
     Route: 064
  788. DIETARY SUPPLEMENT\HERBALS [Concomitant]
     Active Substance: DIETARY SUPPLEMENT\HERBALS
     Dosage: DROPS ORAL
     Route: 064
  789. ALBUTEROL [Concomitant]
     Active Substance: ALBUTEROL
     Indication: Product used for unknown indication
     Route: 064
  790. FISH OIL [Concomitant]
     Active Substance: FISH OIL
     Indication: Product used for unknown indication
     Route: 064
  791. VITAMIN C [Concomitant]
     Active Substance: ASCORBIC ACID
     Indication: Product used for unknown indication
     Route: 064
  792. VITAMIN C [Concomitant]
     Active Substance: ASCORBIC ACID
     Route: 064
  793. VITAMIN C [Concomitant]
     Active Substance: ASCORBIC ACID
     Route: 064
  794. VITAMIN C [Concomitant]
     Active Substance: ASCORBIC ACID
     Route: 064
  795. PREDNISONE [Concomitant]
     Active Substance: PREDNISONE
     Indication: Product used for unknown indication
     Route: 064
  796. PREDNISONE [Concomitant]
     Active Substance: PREDNISONE
     Route: 064
  797. ZOPICLONE [Concomitant]
     Active Substance: ZOPICLONE
     Indication: Product used for unknown indication
     Route: 064
  798. CELECOXIB [Concomitant]
     Active Substance: CELECOXIB
     Indication: Product used for unknown indication
     Route: 064
  799. CELECOXIB [Concomitant]
     Active Substance: CELECOXIB
     Route: 064
  800. CELECOXIB [Concomitant]
     Active Substance: CELECOXIB
     Route: 064
  801. CELECOXIB [Concomitant]
     Active Substance: CELECOXIB
     Route: 064
  802. DICLOFENAC POTASSIUM [Concomitant]
     Active Substance: DICLOFENAC POTASSIUM
     Indication: Product used for unknown indication
     Route: 064
  803. DICLOFENAC POTASSIUM [Concomitant]
     Active Substance: DICLOFENAC POTASSIUM
     Route: 064
  804. DICLOFENAC POTASSIUM [Concomitant]
     Active Substance: DICLOFENAC POTASSIUM
     Route: 064
  805. DICLOFENAC POTASSIUM [Concomitant]
     Active Substance: DICLOFENAC POTASSIUM
     Route: 064
  806. DICLOFENAC POTASSIUM [Concomitant]
     Active Substance: DICLOFENAC POTASSIUM
     Route: 064
  807. DICLOFENAC POTASSIUM [Concomitant]
     Active Substance: DICLOFENAC POTASSIUM
     Route: 064
  808. DICLOFENAC POTASSIUM [Concomitant]
     Active Substance: DICLOFENAC POTASSIUM
     Route: 064
  809. TYLENOL WITH CODEINE [Concomitant]
     Active Substance: ACETAMINOPHEN\CODEINE PHOSPHATE
     Indication: Product used for unknown indication
     Route: 064
  810. HYDROXYCHLOROQUINE SULFATE [Concomitant]
     Active Substance: HYDROXYCHLOROQUINE SULFATE
     Indication: Product used for unknown indication
     Route: 064
  811. ACETAMINOPHEN [Concomitant]
     Active Substance: ACETAMINOPHEN
     Indication: Product used for unknown indication
     Route: 064
  812. ACETAMINOPHEN\CAFFEINE\CODEINE PHOSPHATE [Concomitant]
     Active Substance: ACETAMINOPHEN\CAFFEINE\CODEINE PHOSPHATE
     Indication: Product used for unknown indication
     Route: 064
  813. CALCIUM [Concomitant]
     Active Substance: CALCIUM
     Indication: Product used for unknown indication
     Route: 064
  814. CALCIUM [Concomitant]
     Active Substance: CALCIUM
     Dosage: TABLET (EFFERVESCENT)
     Route: 064
  815. CETRIMIDE [Concomitant]
     Active Substance: CETRIMIDE
     Indication: Product used for unknown indication
     Route: 064
  816. DOXYCYCLINE [Concomitant]
     Active Substance: DOXYCYCLINE
     Indication: Product used for unknown indication
     Route: 064
  817. ETANERCEPT [Concomitant]
     Active Substance: ETANERCEPT
     Indication: Product used for unknown indication
     Route: 064
  818. ETANERCEPT [Concomitant]
     Active Substance: ETANERCEPT
     Route: 064
  819. ETANERCEPT [Concomitant]
     Active Substance: ETANERCEPT
     Route: 064
  820. ETANERCEPT [Concomitant]
     Active Substance: ETANERCEPT
     Route: 064
  821. FLUMETHASONE PIVALATE [Concomitant]
     Active Substance: FLUMETHASONE PIVALATE
     Indication: Product used for unknown indication
     Route: 064
  822. FLUMETHASONE PIVALATE [Concomitant]
     Active Substance: FLUMETHASONE PIVALATE
     Route: 064
  823. FLUMETHASONE PIVALATE [Concomitant]
     Active Substance: FLUMETHASONE PIVALATE
     Route: 064
  824. LORAZEPAM [Concomitant]
     Active Substance: LORAZEPAM
     Indication: Product used for unknown indication
     Route: 064
  825. MOXIFLOXACIN [Concomitant]
     Active Substance: MOXIFLOXACIN
     Indication: Product used for unknown indication
     Route: 064
  826. MOXIFLOXACIN [Concomitant]
     Active Substance: MOXIFLOXACIN
     Route: 064
  827. NAPROXEN [Concomitant]
     Active Substance: NAPROXEN
     Indication: Product used for unknown indication
     Route: 064
  828. NAPROXEN [Concomitant]
     Active Substance: NAPROXEN
     Route: 064
  829. NAPROXEN [Concomitant]
     Active Substance: NAPROXEN
     Indication: Product used for unknown indication
     Route: 064
  830. NAPROXEN [Concomitant]
     Active Substance: NAPROXEN
     Route: 064
  831. NAPROXEN [Concomitant]
     Active Substance: NAPROXEN
     Route: 064
  832. NAPROXEN [Concomitant]
     Active Substance: NAPROXEN
     Route: 064
  833. NAPROXEN [Concomitant]
     Active Substance: NAPROXEN
     Route: 064
  834. NAPROXEN [Concomitant]
     Active Substance: NAPROXEN
     Route: 064
  835. NAPROXEN [Concomitant]
     Active Substance: NAPROXEN
     Route: 064
  836. NAPROXEN [Concomitant]
     Active Substance: NAPROXEN
     Route: 064
  837. PREVACID [Concomitant]
     Active Substance: LANSOPRAZOLE
     Indication: Product used for unknown indication
     Route: 064
  838. PSEUDOEPHEDRINE [Concomitant]
     Active Substance: PSEUDOEPHEDRINE
     Indication: Product used for unknown indication
     Route: 064
  839. QUETIAPINE [Concomitant]
     Active Substance: QUETIAPINE
     Indication: Product used for unknown indication
     Route: 064
  840. QUETIAPINE [Concomitant]
     Active Substance: QUETIAPINE
     Route: 064
  841. QUETIAPINE [Concomitant]
     Active Substance: QUETIAPINE
     Route: 064
  842. RITUXAN [Concomitant]
     Active Substance: RITUXIMAB
     Indication: Product used for unknown indication
     Dosage: SOLUTION INTRAVENOUS
     Route: 064
  843. SOLU-MEDROL [Concomitant]
     Active Substance: METHYLPREDNISOLONE SODIUM SUCCINATE
     Indication: Product used for unknown indication
     Route: 064
  844. VITAMIN D3 [Concomitant]
     Active Substance: CHOLECALCIFEROL
     Indication: Product used for unknown indication
     Route: 064
  845. VITAMIN D3 [Concomitant]
     Active Substance: CHOLECALCIFEROL
     Route: 064
  846. VITAMIN D3 [Concomitant]
     Active Substance: CHOLECALCIFEROL
     Route: 064
  847. CODEINE PHOSPHATE [Concomitant]
     Active Substance: CODEINE PHOSPHATE
     Indication: Product used for unknown indication
     Route: 064
  848. HYDROCORTISONE BUTYRATE [Concomitant]
     Active Substance: HYDROCORTISONE BUTYRATE
     Indication: Product used for unknown indication
     Route: 064
  849. HYDROCORTISONE BUTYRATE [Concomitant]
     Active Substance: HYDROCORTISONE BUTYRATE
     Route: 064
  850. HYDROCORTISONE BUTYRATE [Concomitant]
     Active Substance: HYDROCORTISONE BUTYRATE
     Route: 064
  851. PANTOPRAZOLE SODIUM [Concomitant]
     Active Substance: PANTOPRAZOLE SODIUM
     Indication: Product used for unknown indication
     Route: 064
  852. PANTOPRAZOLE SODIUM [Concomitant]
     Active Substance: PANTOPRAZOLE SODIUM
     Route: 064
  853. PANTOPRAZOLE SODIUM [Concomitant]
     Active Substance: PANTOPRAZOLE SODIUM
     Route: 064
  854. PANTOPRAZOLE SODIUM [Concomitant]
     Active Substance: PANTOPRAZOLE SODIUM
     Route: 064
  855. DIETARY SUPPLEMENT\HERBALS [Concomitant]
     Active Substance: DIETARY SUPPLEMENT\HERBALS
     Indication: Product used for unknown indication
     Route: 064
  856. ACETAMINOPHEN\CODEINE PHOSPHATE [Concomitant]
     Active Substance: ACETAMINOPHEN\CODEINE PHOSPHATE
     Indication: Product used for unknown indication
     Route: 064
  857. PSEUDOEPHEDRINE HYDROCHLORIDE [Concomitant]
     Active Substance: PSEUDOEPHEDRINE HYDROCHLORIDE
     Indication: Product used for unknown indication
     Route: 064
  858. PSEUDOEPHEDRINE HYDROCHLORIDE [Concomitant]
     Active Substance: PSEUDOEPHEDRINE HYDROCHLORIDE
     Route: 064
  859. PSEUDOEPHEDRINE HYDROCHLORIDE [Concomitant]
     Active Substance: PSEUDOEPHEDRINE HYDROCHLORIDE
     Route: 064
  860. ACETAMINOPHEN\CAFFEINE\CODEINE PHOSPHATE [Concomitant]
     Active Substance: ACETAMINOPHEN\CAFFEINE\CODEINE PHOSPHATE
     Indication: Product used for unknown indication
     Route: 064
  861. ACETAMINOPHEN\CODEINE PHOSPHATE [Concomitant]
     Active Substance: ACETAMINOPHEN\CODEINE PHOSPHATE
     Indication: Product used for unknown indication
     Route: 064
  862. ACETAMINOPHEN AND CODEINE [Concomitant]
     Active Substance: ACETAMINOPHEN\CODEINE PHOSPHATE
     Indication: Product used for unknown indication
     Route: 064
  863. ALENDRONATE SODIUM [Concomitant]
     Active Substance: ALENDRONATE SODIUM
     Indication: Product used for unknown indication
     Route: 064
  864. ALENDRONATE SODIUM [Concomitant]
     Active Substance: ALENDRONATE SODIUM
     Route: 064
  865. ALENDRONATE SODIUM [Concomitant]
     Active Substance: ALENDRONATE SODIUM
     Route: 064
  866. ALENDRONATE SODIUM [Concomitant]
     Active Substance: ALENDRONATE SODIUM
     Route: 064
  867. ALENDRONATE SODIUM [Concomitant]
     Active Substance: ALENDRONATE SODIUM
     Route: 064
  868. APREPITANT [Concomitant]
     Active Substance: APREPITANT
     Indication: Product used for unknown indication
     Route: 064
  869. CETIRIZINE HYDROCHLORIDE [Concomitant]
     Active Substance: CETIRIZINE HYDROCHLORIDE
     Indication: Product used for unknown indication
     Route: 064
  870. CETIRIZINE HYDROCHLORIDE [Concomitant]
     Active Substance: CETIRIZINE HYDROCHLORIDE
     Route: 064
  871. CETIRIZINE HYDROCHLORIDE [Concomitant]
     Active Substance: CETIRIZINE HYDROCHLORIDE
     Route: 064
  872. CETIRIZINE HYDROCHLORIDE [Concomitant]
     Active Substance: CETIRIZINE HYDROCHLORIDE
     Route: 064
  873. CETIRIZINE HYDROCHLORIDE [Concomitant]
     Active Substance: CETIRIZINE HYDROCHLORIDE
     Route: 064
  874. CETIRIZINE HYDROCHLORIDE [Concomitant]
     Active Substance: CETIRIZINE HYDROCHLORIDE
     Route: 064
  875. CETIRIZINE HYDROCHLORIDE [Concomitant]
     Active Substance: CETIRIZINE HYDROCHLORIDE
     Route: 064
  876. CETIRIZINE HYDROCHLORIDE [Concomitant]
     Active Substance: CETIRIZINE HYDROCHLORIDE
     Route: 064
  877. CETIRIZINE HYDROCHLORIDE [Concomitant]
     Active Substance: CETIRIZINE HYDROCHLORIDE
     Route: 064
  878. CETIRIZINE HYDROCHLORIDE [Concomitant]
     Active Substance: CETIRIZINE HYDROCHLORIDE
     Route: 064
  879. CETIRIZINE HYDROCHLORIDE [Concomitant]
     Active Substance: CETIRIZINE HYDROCHLORIDE
     Route: 064
  880. CETIRIZINE HYDROCHLORIDE [Concomitant]
     Active Substance: CETIRIZINE HYDROCHLORIDE
     Route: 064
  881. CETIRIZINE HYDROCHLORIDE [Concomitant]
     Active Substance: CETIRIZINE HYDROCHLORIDE
     Route: 064
  882. CETIRIZINE HYDROCHLORIDE [Concomitant]
     Active Substance: CETIRIZINE HYDROCHLORIDE
     Route: 064
  883. CETIRIZINE HYDROCHLORIDE [Concomitant]
     Active Substance: CETIRIZINE HYDROCHLORIDE
     Route: 064
  884. CETIRIZINE HYDROCHLORIDE [Concomitant]
     Active Substance: CETIRIZINE HYDROCHLORIDE
     Route: 064
  885. CETIRIZINE HYDROCHLORIDE [Concomitant]
     Active Substance: CETIRIZINE HYDROCHLORIDE
     Route: 064
  886. CETIRIZINE HYDROCHLORIDE [Concomitant]
     Active Substance: CETIRIZINE HYDROCHLORIDE
     Route: 064
  887. CETIRIZINE HYDROCHLORIDE [Concomitant]
     Active Substance: CETIRIZINE HYDROCHLORIDE
     Route: 064
  888. CETIRIZINE HYDROCHLORIDE [Concomitant]
     Active Substance: CETIRIZINE HYDROCHLORIDE
     Route: 064
  889. CETIRIZINE HYDROCHLORIDE [Concomitant]
     Active Substance: CETIRIZINE HYDROCHLORIDE
     Route: 064
  890. CETIRIZINE HYDROCHLORIDE [Concomitant]
     Active Substance: CETIRIZINE HYDROCHLORIDE
     Route: 064
  891. CETIRIZINE HYDROCHLORIDE [Concomitant]
     Active Substance: CETIRIZINE HYDROCHLORIDE
     Route: 064
  892. CETIRIZINE HYDROCHLORIDE [Concomitant]
     Active Substance: CETIRIZINE HYDROCHLORIDE
     Route: 064
  893. CETIRIZINE HYDROCHLORIDE [Concomitant]
     Active Substance: CETIRIZINE HYDROCHLORIDE
     Route: 064
  894. CETIRIZINE HYDROCHLORIDE [Concomitant]
     Active Substance: CETIRIZINE HYDROCHLORIDE
     Route: 064
  895. CETIRIZINE HYDROCHLORIDE [Concomitant]
     Active Substance: CETIRIZINE HYDROCHLORIDE
     Route: 064
  896. CETIRIZINE HYDROCHLORIDE [Concomitant]
     Active Substance: CETIRIZINE HYDROCHLORIDE
     Route: 064
  897. CETIRIZINE HYDROCHLORIDE [Concomitant]
     Active Substance: CETIRIZINE HYDROCHLORIDE
     Route: 064
  898. CETIRIZINE HYDROCHLORIDE [Concomitant]
     Active Substance: CETIRIZINE HYDROCHLORIDE
     Route: 064
  899. CETIRIZINE HYDROCHLORIDE [Concomitant]
     Active Substance: CETIRIZINE HYDROCHLORIDE
     Route: 064
  900. CETIRIZINE HYDROCHLORIDE [Concomitant]
     Active Substance: CETIRIZINE HYDROCHLORIDE
     Route: 064
  901. CHLORHEXIDINE GLUCONATE [Concomitant]
     Active Substance: CHLORHEXIDINE GLUCONATE
     Indication: Product used for unknown indication
     Route: 064
  902. CHLORHEXIDINE GLUCONATE [Concomitant]
     Active Substance: CHLORHEXIDINE GLUCONATE
     Route: 064
  903. CHLORHEXIDINE GLUCONATE\ISOPROPYL ALCOHOL [Concomitant]
     Active Substance: CHLORHEXIDINE GLUCONATE\ISOPROPYL ALCOHOL
     Indication: Product used for unknown indication
     Route: 064
  904. CHLORHEXIDINE GLUCONATE\ISOPROPYL ALCOHOL [Concomitant]
     Active Substance: CHLORHEXIDINE GLUCONATE\ISOPROPYL ALCOHOL
     Route: 064
  905. OXYCODONE HYDROCHLORIDE [Concomitant]
     Active Substance: OXYCODONE HYDROCHLORIDE
     Indication: Product used for unknown indication
     Route: 064
  906. SULFAMETHOXAZOLE\TRIMETHOPRIM [Concomitant]
     Active Substance: SULFAMETHOXAZOLE\TRIMETHOPRIM
     Indication: Product used for unknown indication
     Route: 064
  907. TOCILIZUMAB [Concomitant]
     Active Substance: TOCILIZUMAB
     Indication: Product used for unknown indication
     Route: 064
  908. TOCILIZUMAB [Concomitant]
     Active Substance: TOCILIZUMAB
     Route: 064
  909. TOCILIZUMAB [Concomitant]
     Active Substance: TOCILIZUMAB
     Route: 064
  910. TOCILIZUMAB [Concomitant]
     Active Substance: TOCILIZUMAB
     Route: 064
  911. TOCILIZUMAB [Concomitant]
     Active Substance: TOCILIZUMAB
     Route: 064
  912. TOCILIZUMAB [Concomitant]
     Active Substance: TOCILIZUMAB
     Route: 064
  913. TOCILIZUMAB [Concomitant]
     Active Substance: TOCILIZUMAB
     Route: 064
  914. TOCILIZUMAB [Concomitant]
     Active Substance: TOCILIZUMAB
     Route: 064
  915. TOCILIZUMAB [Concomitant]
     Active Substance: TOCILIZUMAB
     Route: 064
  916. TOCILIZUMAB [Concomitant]
     Active Substance: TOCILIZUMAB
     Route: 064
  917. USTEKINUMAB [Concomitant]
     Active Substance: USTEKINUMAB
     Indication: Product used for unknown indication
     Route: 064
  918. USTEKINUMAB [Concomitant]
     Active Substance: USTEKINUMAB
     Route: 064
  919. USTEKINUMAB [Concomitant]
     Active Substance: USTEKINUMAB
     Route: 064
  920. USTEKINUMAB [Concomitant]
     Active Substance: USTEKINUMAB
     Route: 064
  921. USTEKINUMAB [Concomitant]
     Active Substance: USTEKINUMAB
     Route: 064
  922. EMEND [Concomitant]
     Active Substance: APREPITANT
     Indication: Product used for unknown indication
     Route: 064
  923. EMEND [Concomitant]
     Active Substance: APREPITANT
     Route: 064
  924. ACETAMINOPHEN\OXYCODONE HYDROCHLORIDE [Concomitant]
     Active Substance: ACETAMINOPHEN\OXYCODONE HYDROCHLORIDE
     Indication: Product used for unknown indication
     Route: 064
  925. ACETAMINOPHEN\PROPOXYPHENE [Concomitant]
     Active Substance: ACETAMINOPHEN\PROPOXYPHENE
     Indication: Product used for unknown indication
     Route: 064
  926. CAFFEINE;DIHYDROCODEINE;PARACETAMOL [Concomitant]
     Indication: Product used for unknown indication
     Route: 064
  927. LEFLUNOMIDE [Concomitant]
     Active Substance: LEFLUNOMIDE
     Indication: Product used for unknown indication
     Route: 064
  928. LEFLUNOMIDE [Concomitant]
     Active Substance: LEFLUNOMIDE
     Route: 064
  929. LEFLUNOMIDE [Concomitant]
     Active Substance: LEFLUNOMIDE
     Route: 064
  930. LEFLUNOMIDE [Concomitant]
     Active Substance: LEFLUNOMIDE
     Route: 064
  931. LEFLUNOMIDE [Concomitant]
     Active Substance: LEFLUNOMIDE
     Route: 064
  932. HYDROCORTISONE PROBUTATE [Concomitant]
     Active Substance: HYDROCORTISONE PROBUTATE
     Indication: Product used for unknown indication
     Route: 064
  933. ERGOCALCIFEROL [Concomitant]
     Active Substance: ERGOCALCIFEROL
     Indication: Product used for unknown indication
     Route: 064
  934. HYDROCORTISONE ACETATE [Concomitant]
     Active Substance: HYDROCORTISONE ACETATE
     Indication: Product used for unknown indication
     Route: 064
  935. TRAMADOL HYDROCHLORIDE AND ACETAMINOPHEN [Concomitant]
     Active Substance: ACETAMINOPHEN\TRAMADOL HYDROCHLORIDE
     Indication: Product used for unknown indication
     Route: 064
  936. CETIRIZINE HYDROCHLORIDE\PSEUDOEPHEDRINE HYDROCHLORIDE [Concomitant]
     Active Substance: CETIRIZINE HYDROCHLORIDE\PSEUDOEPHEDRINE HYDROCHLORIDE
     Indication: Product used for unknown indication
     Dosage: TABLET (EXTENTED RELEASE)
     Route: 064
  937. CETIRIZINE HYDROCHLORIDE\PSEUDOEPHEDRINE HYDROCHLORIDE [Concomitant]
     Active Substance: CETIRIZINE HYDROCHLORIDE\PSEUDOEPHEDRINE HYDROCHLORIDE
     Dosage: TABLET (EXTENTED RELEASE)
     Route: 064
  938. CETIRIZINE HYDROCHLORIDE\PSEUDOEPHEDRINE HYDROCHLORIDE [Concomitant]
     Active Substance: CETIRIZINE HYDROCHLORIDE\PSEUDOEPHEDRINE HYDROCHLORIDE
     Dosage: TABLET (EXTENTED RELEASE)
     Route: 064
  939. NEOMYCIN [Concomitant]
     Active Substance: NEOMYCIN
     Indication: Product used for unknown indication
     Route: 064
  940. ALENDRONATE SODIUM [Concomitant]
     Active Substance: ALENDRONATE SODIUM
     Indication: Product used for unknown indication
     Route: 064
  941. ISOPROPYL ALCOHOL [Concomitant]
     Active Substance: ISOPROPYL ALCOHOL
     Indication: Product used for unknown indication
     Route: 064
  942. ISOPROPYL ALCOHOL [Concomitant]
     Active Substance: ISOPROPYL ALCOHOL
     Dosage: LIQUID TOPICALI
     Route: 064
  943. OXYCODONE AND ACETAMINOPHEN [Concomitant]
     Active Substance: ACETAMINOPHEN\OXYCODONE HYDROCHLORIDE
     Indication: Product used for unknown indication
     Route: 064
  944. HYDROXYCHLOROQUINE SULFATE [Concomitant]
     Active Substance: HYDROXYCHLOROQUINE SULFATE
     Indication: Product used for unknown indication
     Route: 064
  945. DESOXIMETASONE [Concomitant]
     Active Substance: DESOXIMETASONE
     Indication: Product used for unknown indication
     Route: 064
  946. DESOXIMETASONE [Concomitant]
     Active Substance: DESOXIMETASONE
     Route: 064
  947. DESOXIMETASONE [Concomitant]
     Active Substance: DESOXIMETASONE
     Route: 064
  948. DESOXIMETASONE [Concomitant]
     Active Substance: DESOXIMETASONE
     Route: 064
  949. DESOXIMETASONE [Concomitant]
     Active Substance: DESOXIMETASONE
     Route: 064
  950. DESOXIMETASONE [Concomitant]
     Active Substance: DESOXIMETASONE
     Route: 064
  951. DESOXIMETASONE [Concomitant]
     Active Substance: DESOXIMETASONE
     Route: 064
  952. DESOXIMETASONE [Concomitant]
     Active Substance: DESOXIMETASONE
     Route: 064
  953. DESOXIMETASONE [Concomitant]
     Active Substance: DESOXIMETASONE
     Route: 064
  954. DESOXIMETASONE [Concomitant]
     Active Substance: DESOXIMETASONE
     Route: 064
  955. DESOXIMETASONE [Concomitant]
     Active Substance: DESOXIMETASONE
     Route: 064
  956. ETANERCEPT [Concomitant]
     Active Substance: ETANERCEPT
     Indication: Product used for unknown indication
     Route: 064
  957. AIMOVIG [Concomitant]
     Active Substance: ERENUMAB\ERENUMAB-AOOE
     Indication: Product used for unknown indication
     Route: 064
  958. AIMOVIG [Concomitant]
     Active Substance: ERENUMAB\ERENUMAB-AOOE
     Route: 064
  959. DICLOFENAC DIETHYLAMINE [Concomitant]
     Active Substance: DICLOFENAC DIETHYLAMINE
     Indication: Product used for unknown indication
     Route: 064
  960. TOFACITINIB [Concomitant]
     Active Substance: TOFACITINIB
     Indication: Product used for unknown indication
     Route: 064
  961. TOFACITINIB [Concomitant]
     Active Substance: TOFACITINIB
     Route: 064
  962. TOFACITINIB [Concomitant]
     Active Substance: TOFACITINIB
     Route: 064
  963. TOFACITINIB [Concomitant]
     Active Substance: TOFACITINIB
     Route: 064
  964. TOFACITINIB [Concomitant]
     Active Substance: TOFACITINIB
     Route: 064
  965. TOFACITINIB [Concomitant]
     Active Substance: TOFACITINIB
     Route: 064
  966. SULFATHIAZOLE [Concomitant]
     Active Substance: SULFATHIAZOLE
     Indication: Product used for unknown indication
     Route: 064
  967. GOLD SODIUM THIOMALATE [Concomitant]
     Active Substance: GOLD SODIUM THIOMALATE
     Indication: Product used for unknown indication
     Route: 064
  968. GOLD SODIUM THIOMALATE [Concomitant]
     Active Substance: GOLD SODIUM THIOMALATE
     Route: 064
  969. DIETARY SUPPLEMENT [Concomitant]
     Active Substance: DIETARY SUPPLEMENT
     Indication: Product used for unknown indication
     Route: 064
  970. PHENYLEPHRINE HYDROCHLORIDE [Concomitant]
     Active Substance: PHENYLEPHRINE HYDROCHLORIDE
     Indication: Product used for unknown indication
     Dosage: LIQUID INTRAMUSCULAR
     Route: 064
  971. PHENYLEPHRINE HYDROCHLORIDE [Concomitant]
     Active Substance: PHENYLEPHRINE HYDROCHLORIDE
     Route: 064
  972. NUCALA [Concomitant]
     Active Substance: MEPOLIZUMAB
     Indication: Product used for unknown indication
     Route: 064
  973. METHYLPREDNISOLONE SODIUM SUCCINATE [Concomitant]
     Active Substance: METHYLPREDNISOLONE SODIUM SUCCINATE
     Indication: Product used for unknown indication
     Route: 064
  974. METFORMIN HYDROCHLORIDE [Concomitant]
     Active Substance: METFORMIN HYDROCHLORIDE
     Indication: Product used for unknown indication
     Route: 064
  975. GOLIMUMAB [Concomitant]
     Active Substance: GOLIMUMAB
     Indication: Product used for unknown indication
     Route: 064
  976. GOLIMUMAB [Concomitant]
     Active Substance: GOLIMUMAB
     Route: 064
  977. GOLD SODIUM THIOMALATE [Concomitant]
     Active Substance: GOLD SODIUM THIOMALATE
     Indication: Product used for unknown indication
     Dosage: SOLUTION INTRAMUSCULAR
     Route: 064
  978. GOLD SODIUM THIOMALATE [Concomitant]
     Active Substance: GOLD SODIUM THIOMALATE
     Route: 064
  979. GOLD SODIUM THIOMALATE [Concomitant]
     Active Substance: GOLD SODIUM THIOMALATE
     Route: 064
  980. GOLD [Concomitant]
     Active Substance: GOLD
     Indication: Product used for unknown indication
     Route: 064
  981. GOLD [Concomitant]
     Active Substance: GOLD
     Route: 064
  982. FLUMETHASONE [Concomitant]
     Active Substance: FLUMETHASONE
     Indication: Product used for unknown indication
     Route: 064
  983. DOMPERIDONE MALEATE [Concomitant]
     Active Substance: DOMPERIDONE MALEATE
     Indication: Product used for unknown indication
     Route: 064
  984. DOMPERIDONE MALEATE [Concomitant]
     Active Substance: DOMPERIDONE MALEATE
     Route: 064
  985. DOMPERIDONE MALEATE [Concomitant]
     Active Substance: DOMPERIDONE MALEATE
     Route: 064
  986. DOMPERIDONE MALEATE [Concomitant]
     Active Substance: DOMPERIDONE MALEATE
     Route: 064
  987. DOMPERIDONE MALEATE [Concomitant]
     Active Substance: DOMPERIDONE MALEATE
     Route: 064
  988. DICLOFENAC DIETHYLAMINE [Concomitant]
     Active Substance: DICLOFENAC DIETHYLAMINE
     Indication: Product used for unknown indication
     Route: 064
  989. CERTOLIZUMAB PEGOL [Concomitant]
     Active Substance: CERTOLIZUMAB PEGOL
     Indication: Product used for unknown indication
     Route: 064
  990. CERTOLIZUMAB PEGOL [Concomitant]
     Active Substance: CERTOLIZUMAB PEGOL
     Route: 064
  991. CERTOLIZUMAB PEGOL [Concomitant]
     Active Substance: CERTOLIZUMAB PEGOL
     Route: 064
  992. CERTOLIZUMAB PEGOL [Concomitant]
     Active Substance: CERTOLIZUMAB PEGOL
     Route: 064
  993. CERTOLIZUMAB PEGOL [Concomitant]
     Active Substance: CERTOLIZUMAB PEGOL
     Route: 064
  994. CANDESARTAN [Concomitant]
     Active Substance: CANDESARTAN
     Indication: Product used for unknown indication
     Route: 064
  995. CANDESARTAN [Concomitant]
     Active Substance: CANDESARTAN
     Route: 064
  996. CANDESARTAN [Concomitant]
     Active Substance: CANDESARTAN
     Route: 064
  997. CANDESARTAN [Concomitant]
     Active Substance: CANDESARTAN
     Route: 064
  998. CALCIUM ASCORBATE [Concomitant]
     Active Substance: CALCIUM ASCORBATE
     Indication: Product used for unknown indication
     Route: 064
  999. CALCIUM CITRATE [Concomitant]
     Active Substance: CALCIUM CITRATE
     Indication: Product used for unknown indication
     Route: 064
  1000. ATOMOXETINE [Concomitant]
     Active Substance: ATOMOXETINE HYDROCHLORIDE
     Indication: Product used for unknown indication
     Route: 064
  1001. ATOMOXETINE [Concomitant]
     Active Substance: ATOMOXETINE HYDROCHLORIDE
     Route: 064
  1002. ATOMOXETINE [Concomitant]
     Active Substance: ATOMOXETINE HYDROCHLORIDE
     Route: 064
  1003. BERINERT [Concomitant]
     Active Substance: HUMAN C1-ESTERASE INHIBITOR
     Indication: Product used for unknown indication
     Route: 064
  1004. BOTULINUM TOXIN TYPE A [Concomitant]
     Active Substance: BOTULINUM TOXIN TYPE A
     Indication: Product used for unknown indication
     Route: 064
  1005. BOTULINUM TOXIN TYPE A [Concomitant]
     Active Substance: BOTULINUM TOXIN TYPE A
     Route: 064
  1006. BOTULINUM TOXIN TYPE A [Concomitant]
     Active Substance: BOTULINUM TOXIN TYPE A
     Route: 064
  1007. BOTULINUM TOXIN TYPE A [Concomitant]
     Active Substance: BOTULINUM TOXIN TYPE A
     Route: 064
  1008. APREMILAST [Concomitant]
     Active Substance: APREMILAST
     Indication: Product used for unknown indication
     Route: 064
  1009. APREMILAST [Concomitant]
     Active Substance: APREMILAST
     Route: 064
  1010. APREMILAST [Concomitant]
     Active Substance: APREMILAST
     Route: 064
  1011. APREMILAST [Concomitant]
     Active Substance: APREMILAST
     Route: 064
  1012. APREMILAST [Concomitant]
     Active Substance: APREMILAST
     Route: 064
  1013. HYALURONIDASE (HUMAN RECOMBINANT) [Concomitant]
     Active Substance: HYALURONIDASE (HUMAN RECOMBINANT)
     Indication: Product used for unknown indication
     Dosage: V
     Route: 064
  1014. TOFACITINIB CITRATE [Concomitant]
     Active Substance: TOFACITINIB CITRATE
     Indication: Product used for unknown indication
     Route: 064
  1015. TOFACITINIB CITRATE [Concomitant]
     Active Substance: TOFACITINIB CITRATE
     Route: 064
  1016. TOFACITINIB CITRATE [Concomitant]
     Active Substance: TOFACITINIB CITRATE
     Route: 064
  1017. PSEUDOEPHEDRINE HYDROCHLORIDE [Concomitant]
     Active Substance: PSEUDOEPHEDRINE HYDROCHLORIDE
     Indication: Product used for unknown indication
     Route: 064
  1018. PSEUDOEPHEDRINE HYDROCHLORIDE [Concomitant]
     Active Substance: PSEUDOEPHEDRINE HYDROCHLORIDE
     Route: 064
  1019. PSEUDOEPHEDRINE HYDROCHLORIDE [Concomitant]
     Active Substance: PSEUDOEPHEDRINE HYDROCHLORIDE
     Route: 064
  1020. PSEUDOEPHEDRINE HYDROCHLORIDE [Concomitant]
     Active Substance: PSEUDOEPHEDRINE HYDROCHLORIDE
     Route: 064
  1021. PSEUDOEPHEDRINE HYDROCHLORIDE [Concomitant]
     Active Substance: PSEUDOEPHEDRINE HYDROCHLORIDE
     Route: 064
  1022. PSEUDOEPHEDRINE HYDROCHLORIDE [Concomitant]
     Active Substance: PSEUDOEPHEDRINE HYDROCHLORIDE
     Route: 064
  1023. PSEUDOEPHEDRINE HYDROCHLORIDE [Concomitant]
     Active Substance: PSEUDOEPHEDRINE HYDROCHLORIDE
     Route: 064
  1024. PSEUDOEPHEDRINE HYDROCHLORIDE [Concomitant]
     Active Substance: PSEUDOEPHEDRINE HYDROCHLORIDE
     Route: 064
  1025. PSEUDOEPHEDRINE HYDROCHLORIDE [Concomitant]
     Active Substance: PSEUDOEPHEDRINE HYDROCHLORIDE
     Route: 064
  1026. PSEUDOEPHEDRINE HYDROCHLORIDE [Concomitant]
     Active Substance: PSEUDOEPHEDRINE HYDROCHLORIDE
     Route: 064
  1027. PSEUDOEPHEDRINE HYDROCHLORIDE [Concomitant]
     Active Substance: PSEUDOEPHEDRINE HYDROCHLORIDE
     Route: 064
  1028. CETIRIZINE HYDROCHLORIDE\PSEUDOEPHEDRINE HYDROCHLORIDE [Concomitant]
     Active Substance: CETIRIZINE HYDROCHLORIDE\PSEUDOEPHEDRINE HYDROCHLORIDE
     Indication: Product used for unknown indication
     Route: 064
  1029. ACETAMINOPHEN\CAFFEINE\CODEINE PHOSPHATE [Concomitant]
     Active Substance: ACETAMINOPHEN\CAFFEINE\CODEINE PHOSPHATE
     Indication: Product used for unknown indication
     Route: 064
  1030. BETAMETHASONE [Concomitant]
     Active Substance: BETAMETHASONE
     Indication: Product used for unknown indication
     Route: 064
  1031. BETAMETHASONE [Concomitant]
     Active Substance: BETAMETHASONE
     Route: 064
  1032. BETAMETHASONE [Concomitant]
     Active Substance: BETAMETHASONE
     Route: 064
  1033. BETAMETHASONE [Concomitant]
     Active Substance: BETAMETHASONE
     Route: 064
  1034. BUPRENORPHINE [Concomitant]
     Active Substance: BUPRENORPHINE
     Indication: Product used for unknown indication
     Route: 064
  1035. CYCLOBENZAPRINE [Concomitant]
     Active Substance: CYCLOBENZAPRINE
     Indication: Product used for unknown indication
     Route: 064
  1036. CYCLOBENZAPRINE [Concomitant]
     Active Substance: CYCLOBENZAPRINE
     Route: 064
  1037. DOMPERIDONE [Concomitant]
     Active Substance: DOMPERIDONE
     Indication: Product used for unknown indication
     Route: 064
  1038. FINACEA [Concomitant]
     Active Substance: AZELAIC ACID
     Indication: Product used for unknown indication
     Route: 064
  1039. FINACEA [Concomitant]
     Active Substance: AZELAIC ACID
     Route: 064
  1040. FLUTICASONE [Concomitant]
     Active Substance: FLUTICASONE
     Indication: Product used for unknown indication
     Route: 064
  1041. HYDROCORTISONE PROBUTATE [Concomitant]
     Active Substance: HYDROCORTISONE PROBUTATE
     Indication: Product used for unknown indication
     Route: 064
  1042. HYDROMORPHONE [Concomitant]
     Active Substance: HYDROMORPHONE
     Indication: Product used for unknown indication
     Route: 064
  1043. HYDROMORPHONE [Concomitant]
     Active Substance: HYDROMORPHONE
     Route: 064
  1044. HYDROMORPHONE [Concomitant]
     Active Substance: HYDROMORPHONE
     Route: 064
  1045. HYDROMORPHONE [Concomitant]
     Active Substance: HYDROMORPHONE
     Route: 064
  1046. LAMOTRIGINE [Concomitant]
     Active Substance: LAMOTRIGINE
     Indication: Product used for unknown indication
     Route: 064
  1047. LAMOTRIGINE [Concomitant]
     Active Substance: LAMOTRIGINE
     Route: 064
  1048. LAMOTRIGINE [Concomitant]
     Active Substance: LAMOTRIGINE
     Route: 064
  1049. LAMOTRIGINE [Concomitant]
     Active Substance: LAMOTRIGINE
     Route: 064
  1050. LEVOMILNACIPRAN [Concomitant]
     Active Substance: LEVOMILNACIPRAN
     Indication: Product used for unknown indication
     Route: 064
  1051. LEVOMILNACIPRAN [Concomitant]
     Active Substance: LEVOMILNACIPRAN
     Route: 064
  1052. LEVOMILNACIPRAN [Concomitant]
     Active Substance: LEVOMILNACIPRAN
     Route: 064
  1053. FLUMETHASONE PIVALATE [Concomitant]
     Active Substance: FLUMETHASONE PIVALATE
     Indication: Product used for unknown indication
     Route: 064
  1054. METHYLPREDNISOLONE [Concomitant]
     Active Substance: METHYLPREDNISOLONE
     Indication: Product used for unknown indication
     Route: 064
  1055. METHYLPREDNISOLONE [Concomitant]
     Active Substance: METHYLPREDNISOLONE
     Route: 064
  1056. MINOCYCLINE [Concomitant]
     Active Substance: MINOCYCLINE HYDROCHLORIDE
     Indication: Product used for unknown indication
     Route: 064
  1057. MYRBETRIQ [Concomitant]
     Active Substance: MIRABEGRON
     Indication: Product used for unknown indication
     Route: 064
  1058. MYRBETRIQ [Concomitant]
     Active Substance: MIRABEGRON
     Route: 064
  1059. MYRBETRIQ [Concomitant]
     Active Substance: MIRABEGRON
     Route: 064
  1060. MYRBETRIQ [Concomitant]
     Active Substance: MIRABEGRON
     Route: 064
  1061. PHOSPHORUS [Concomitant]
     Active Substance: PHOSPHORUS
     Indication: Product used for unknown indication
     Route: 064
  1062. RANITIDINE [Concomitant]
     Active Substance: RANITIDINE
     Indication: Product used for unknown indication
     Route: 064
  1063. RANITIDINE [Concomitant]
     Active Substance: RANITIDINE
     Route: 064
  1064. RANITIDINE [Concomitant]
     Active Substance: RANITIDINE
     Route: 064
  1065. RANITIDINE [Concomitant]
     Active Substance: RANITIDINE
     Route: 064
  1066. SIRUKUMAB [Concomitant]
     Active Substance: SIRUKUMAB
     Indication: Product used for unknown indication
     Route: 064
  1067. TOPIRAMATE [Concomitant]
     Active Substance: TOPIRAMATE
     Indication: Product used for unknown indication
     Route: 064
  1068. TOPIRAMATE [Concomitant]
     Active Substance: TOPIRAMATE
     Route: 064
  1069. TOPIRAMATE [Concomitant]
     Active Substance: TOPIRAMATE
     Route: 064
  1070. TOPIRAMATE [Concomitant]
     Active Substance: TOPIRAMATE
     Route: 064
  1071. TOPIRAMATE [Concomitant]
     Active Substance: TOPIRAMATE
     Route: 064
  1072. TOPIRAMATE [Concomitant]
     Active Substance: TOPIRAMATE
     Route: 064
  1073. TOPIRAMATE [Concomitant]
     Active Substance: TOPIRAMATE
     Route: 064
  1074. TOPIRAMATE [Concomitant]
     Active Substance: TOPIRAMATE
     Route: 064
  1075. TRAZODONE [Concomitant]
     Active Substance: TRAZODONE HYDROCHLORIDE
     Indication: Product used for unknown indication
     Route: 064
  1076. TRETINOIN [Concomitant]
     Active Substance: TRETINOIN
     Indication: Product used for unknown indication
     Route: 064
  1077. AZATHIOPRINE SODIUM [Concomitant]
     Active Substance: AZATHIOPRINE SODIUM
     Indication: Product used for unknown indication
     Route: 064
  1078. BUTRANS [Concomitant]
     Active Substance: BUPRENORPHINE
     Indication: Product used for unknown indication
     Route: 064
  1079. BUTRANS [Concomitant]
     Active Substance: BUPRENORPHINE
     Dosage: PATCH
     Route: 064
  1080. LAMICTAL [Concomitant]
     Active Substance: LAMOTRIGINE
     Indication: Product used for unknown indication
     Route: 064
  1081. LAMICTAL [Concomitant]
     Active Substance: LAMOTRIGINE
     Route: 064
  1082. LAMICTAL [Concomitant]
     Active Substance: LAMOTRIGINE
     Route: 064
  1083. LAMICTAL [Concomitant]
     Active Substance: LAMOTRIGINE
     Route: 064
  1084. LAMICTAL [Concomitant]
     Active Substance: LAMOTRIGINE
     Route: 064
  1085. LAMICTAL [Concomitant]
     Active Substance: LAMOTRIGINE
     Route: 064
  1086. LAMICTAL [Concomitant]
     Active Substance: LAMOTRIGINE
     Route: 064
  1087. MAGNESIUM CITRATE [Concomitant]
     Active Substance: MAGNESIUM CITRATE
     Indication: Product used for unknown indication
     Route: 064
  1088. THIAMINE HYDROCHLORIDE [Concomitant]
     Active Substance: THIAMINE HYDROCHLORIDE
     Indication: Product used for unknown indication
     Route: 064
  1089. THIAMINE HYDROCHLORIDE [Concomitant]
     Active Substance: THIAMINE HYDROCHLORIDE
     Route: 064
  1090. MINOCYCLINE HYDROCHLORIDE [Concomitant]
     Active Substance: MINOCYCLINE HYDROCHLORIDE
     Indication: Product used for unknown indication
     Route: 064
  1091. MINOCYCLINE HYDROCHLORIDE [Concomitant]
     Active Substance: MINOCYCLINE HYDROCHLORIDE
     Route: 064
  1092. MYOCHRYSINE [Concomitant]
     Active Substance: GOLD SODIUM THIOMALATE
     Indication: Product used for unknown indication
     Dosage: SOLUTION INTRAMUSCULAR
     Route: 064
  1093. RANITIDINE HYDROCHLORIDE [Concomitant]
     Active Substance: RANITIDINE HYDROCHLORIDE
     Indication: Product used for unknown indication
     Route: 064
  1094. ALENDRONATE SODIUM\CHOLECALCIFEROL [Concomitant]
     Active Substance: ALENDRONATE SODIUM\CHOLECALCIFEROL
     Indication: Product used for unknown indication
     Route: 064
  1095. CHLORHEXIDINE ACETATE [Concomitant]
     Active Substance: CHLORHEXIDINE ACETATE
     Indication: Product used for unknown indication
     Route: 064
  1096. CHLORHEXIDINE ACETATE [Concomitant]
     Active Substance: CHLORHEXIDINE ACETATE
     Route: 064
  1097. CHLORHEXIDINE ACETATE [Concomitant]
     Active Substance: CHLORHEXIDINE ACETATE
     Route: 064
  1098. MEGLUMINE [Concomitant]
     Active Substance: MEGLUMINE
     Indication: Product used for unknown indication
     Route: 064
  1099. ATOMOXETINE HYDROCHLORIDE [Concomitant]
     Active Substance: ATOMOXETINE HYDROCHLORIDE
     Indication: Product used for unknown indication
     Route: 064
  1100. ATOMOXETINE HYDROCHLORIDE [Concomitant]
     Active Substance: ATOMOXETINE HYDROCHLORIDE
     Route: 064
  1101. ATOMOXETINE HYDROCHLORIDE [Concomitant]
     Active Substance: ATOMOXETINE HYDROCHLORIDE
     Route: 064
  1102. ATOMOXETINE HYDROCHLORIDE [Concomitant]
     Active Substance: ATOMOXETINE HYDROCHLORIDE
     Route: 064
  1103. ATOMOXETINE HYDROCHLORIDE [Concomitant]
     Active Substance: ATOMOXETINE HYDROCHLORIDE
     Route: 064
  1104. ATOMOXETINE HYDROCHLORIDE [Concomitant]
     Active Substance: ATOMOXETINE HYDROCHLORIDE
     Route: 064
  1105. HAIR KERATIN AMINO ACIDS GOLD COMPLEX [Concomitant]
     Active Substance: HAIR KERATIN AMINO ACIDS GOLD COMPLEX
     Indication: Product used for unknown indication
     Route: 064
  1106. TRAMADOL HYDROCHLORIDE [Concomitant]
     Active Substance: TRAMADOL HYDROCHLORIDE
     Indication: Product used for unknown indication
     Route: 064
  1107. TRAMADOL HYDROCHLORIDE [Concomitant]
     Active Substance: TRAMADOL HYDROCHLORIDE
     Route: 064
  1108. DESOGESTREL [Concomitant]
     Active Substance: DESOGESTREL
     Indication: Product used for unknown indication
     Route: 064
  1109. CLIOQUINOL\FLUMETHASONE [Concomitant]
     Active Substance: CLIOQUINOL\FLUMETHASONE
     Indication: Product used for unknown indication
     Route: 064
  1110. ACETAMINOPHEN\BUTALBITAL\CAFFEINE\CODEINE PHOSPHATE [Concomitant]
     Active Substance: ACETAMINOPHEN\BUTALBITAL\CAFFEINE\CODEINE PHOSPHATE
     Indication: Product used for unknown indication
     Route: 064
  1111. TRIAMCINOLONE [Concomitant]
     Active Substance: TRIAMCINOLONE
     Indication: Product used for unknown indication
     Route: 064
  1112. TRIAMCINOLONE [Concomitant]
     Active Substance: TRIAMCINOLONE
     Route: 064
  1113. ACETAMINOPHEN\BUTALBITAL [Concomitant]
     Active Substance: ACETAMINOPHEN\BUTALBITAL
     Indication: Product used for unknown indication
     Route: 064
  1114. CYANOCOBALAMIN [Concomitant]
     Active Substance: CYANOCOBALAMIN
     Indication: Product used for unknown indication
     Route: 064
  1115. CYANOCOBALAMIN [Concomitant]
     Active Substance: CYANOCOBALAMIN
     Route: 064
  1116. METFORMIN HYDROCHLORIDE [Concomitant]
     Active Substance: METFORMIN HYDROCHLORIDE
     Indication: Product used for unknown indication
     Route: 064
  1117. MAGNESIUM HYDROXIDE [Concomitant]
     Active Substance: MAGNESIUM HYDROXIDE
     Indication: Product used for unknown indication
     Route: 064
  1118. FLUTICASONE PROPIONATE [Concomitant]
     Active Substance: FLUTICASONE PROPIONATE
     Indication: Product used for unknown indication
     Route: 064
  1119. ERENUMAB [Concomitant]
     Active Substance: ERENUMAB
     Indication: Product used for unknown indication
     Route: 064
  1120. ERENUMAB [Concomitant]
     Active Substance: ERENUMAB
     Route: 064
  1121. ERENUMAB [Concomitant]
     Active Substance: ERENUMAB
     Route: 064
  1122. PSEUDOEPHEDRINE HYDROCHLORIDE [Concomitant]
     Active Substance: PSEUDOEPHEDRINE HYDROCHLORIDE
     Indication: Product used for unknown indication
     Route: 064
  1123. PSEUDOEPHEDRINE HYDROCHLORIDE [Concomitant]
     Active Substance: PSEUDOEPHEDRINE HYDROCHLORIDE
     Route: 064
  1124. PSEUDOEPHEDRINE HYDROCHLORIDE [Concomitant]
     Active Substance: PSEUDOEPHEDRINE HYDROCHLORIDE
     Route: 064
  1125. DEXTROMETHORPHAN [Concomitant]
     Active Substance: DEXTROMETHORPHAN
     Indication: Product used for unknown indication
     Route: 064
  1126. MINOCYCLINE HYDROCHLORIDE [Concomitant]
     Active Substance: MINOCYCLINE HYDROCHLORIDE
     Indication: Product used for unknown indication
     Route: 064
  1127. NICOTINAMIDE [Concomitant]
     Active Substance: NIACINAMIDE
     Indication: Product used for unknown indication
     Route: 064
  1128. PHENYLEPHRINE HYDROCHLORIDE [Concomitant]
     Active Substance: PHENYLEPHRINE HYDROCHLORIDE
     Indication: Product used for unknown indication
     Route: 064
  1129. RETINOL [Concomitant]
     Active Substance: RETINOL
     Indication: Product used for unknown indication
     Route: 064
  1130. ZINC [Concomitant]
     Active Substance: ZINC
     Indication: Product used for unknown indication
     Route: 064
  1131. ERENUMAB-AOOE [Concomitant]
     Active Substance: ERENUMAB-AOOE
     Indication: Product used for unknown indication
     Route: 064
  1132. FLUTICASONE PROPIONATE [Concomitant]
     Active Substance: FLUTICASONE PROPIONATE
     Indication: Product used for unknown indication
     Route: 064
  1133. SODIUM AUROTIOSULFATE [Concomitant]
     Active Substance: SODIUM AUROTIOSULFATE
     Indication: Product used for unknown indication
     Route: 064
  1134. RIBOFLAVIN [Concomitant]
     Active Substance: RIBOFLAVIN
     Indication: Product used for unknown indication
     Route: 064
  1135. ZINC [Concomitant]
     Active Substance: ZINC
     Indication: Product used for unknown indication
     Route: 064
  1136. RHEUMATREX [Concomitant]
     Active Substance: METHOTREXATE SODIUM
     Indication: Product used for unknown indication
     Route: 064
  1137. HYDROMORPHONE HYDROCHLORIDE [Concomitant]
     Active Substance: HYDROMORPHONE HYDROCHLORIDE
     Indication: Product used for unknown indication
     Route: 064
  1138. ACETAMINOPHEN\NAPROXEN [Concomitant]
     Active Substance: ACETAMINOPHEN\NAPROXEN
     Indication: Product used for unknown indication
     Route: 064
  1139. ERGOCALCIFEROL\RETINOL [Concomitant]
     Active Substance: ERGOCALCIFEROL\RETINOL
     Indication: Product used for unknown indication
     Route: 064
  1140. FLUMETHASONE PIVALATE\NEOMYCIN SULFATE [Concomitant]
     Active Substance: FLUMETHASONE PIVALATE\NEOMYCIN SULFATE
     Indication: Product used for unknown indication
     Route: 064
  1141. FLUMETHASONE PIVALATE\NEOMYCIN SULFATE [Concomitant]
     Active Substance: FLUMETHASONE PIVALATE\NEOMYCIN SULFATE
     Route: 064
  1142. PREGABALIN [Concomitant]
     Active Substance: PREGABALIN
     Indication: Product used for unknown indication
     Route: 064
  1143. PREGABALIN [Concomitant]
     Active Substance: PREGABALIN
     Route: 064
  1144. DICLOFENAC [Concomitant]
     Active Substance: DICLOFENAC
     Indication: Product used for unknown indication
     Route: 064
  1145. PANTOPRAZOLE SODIUM ANHYDROUS [Concomitant]
     Active Substance: PANTOPRAZOLE SODIUM ANHYDROUS
     Indication: Product used for unknown indication
     Route: 064
  1146. PANTOPRAZOLE SODIUM ANHYDROUS [Concomitant]
     Active Substance: PANTOPRAZOLE SODIUM ANHYDROUS
     Route: 064
  1147. PANTOPRAZOLE SODIUM ANHYDROUS [Concomitant]
     Active Substance: PANTOPRAZOLE SODIUM ANHYDROUS
     Route: 064
  1148. PANTOPRAZOLE SODIUM ANHYDROUS [Concomitant]
     Active Substance: PANTOPRAZOLE SODIUM ANHYDROUS
     Route: 064
  1149. PANTOPRAZOLE SODIUM ANHYDROUS [Concomitant]
     Active Substance: PANTOPRAZOLE SODIUM ANHYDROUS
     Route: 064
  1150. PANTOPRAZOLE SODIUM ANHYDROUS [Concomitant]
     Active Substance: PANTOPRAZOLE SODIUM ANHYDROUS
     Route: 064
  1151. PANTOPRAZOLE SODIUM ANHYDROUS [Concomitant]
     Active Substance: PANTOPRAZOLE SODIUM ANHYDROUS
     Route: 064
  1152. PANTOPRAZOLE SODIUM ANHYDROUS [Concomitant]
     Active Substance: PANTOPRAZOLE SODIUM ANHYDROUS
     Route: 064
  1153. PANTOPRAZOLE SODIUM ANHYDROUS [Concomitant]
     Active Substance: PANTOPRAZOLE SODIUM ANHYDROUS
     Route: 064
  1154. PANTOPRAZOLE SODIUM ANHYDROUS [Concomitant]
     Active Substance: PANTOPRAZOLE SODIUM ANHYDROUS
     Route: 064
  1155. ASACOL [Concomitant]
     Active Substance: MESALAMINE
     Indication: Product used for unknown indication
     Route: 064
  1156. AMINOSALICYLATE CALCIUM [Concomitant]
     Active Substance: AMINOSALICYLATE CALCIUM
     Indication: Product used for unknown indication
     Route: 064
  1157. CALCIUM LACTATE [Concomitant]
     Active Substance: CALCIUM LACTATE
     Indication: Product used for unknown indication
     Route: 064
  1158. DIPHENHYDRAMINE [Concomitant]
     Active Substance: DIPHENHYDRAMINE
     Indication: Product used for unknown indication
     Route: 064
  1159. HYDROCORTISONE SODIUM SUCCINATE [Concomitant]
     Active Substance: HYDROCORTISONE SODIUM SUCCINATE
     Indication: Product used for unknown indication
     Route: 064
  1160. MESALAMINE [Concomitant]
     Active Substance: MESALAMINE
     Indication: Product used for unknown indication
     Route: 064
  1161. MESALAMINE [Concomitant]
     Active Substance: MESALAMINE
     Route: 064
  1162. PARA-AMINOSALICYLIC ACID [Concomitant]
     Active Substance: AMINOSALICYLIC ACID
     Indication: Product used for unknown indication
     Route: 064
  1163. PERCOCET [Concomitant]
     Active Substance: ACETAMINOPHEN\OXYCODONE HYDROCHLORIDE
     Indication: Product used for unknown indication
     Dosage: 17.857 FEMTOGRAM
     Route: 064
  1164. FLUTICASONE FUROATE [Concomitant]
     Active Substance: FLUTICASONE FUROATE
     Indication: Product used for unknown indication
     Route: 064
  1165. AZELAIC ACID [Concomitant]
     Active Substance: AZELAIC ACID
     Indication: Product used for unknown indication
     Route: 064
  1166. AZELAIC ACID [Concomitant]
     Active Substance: AZELAIC ACID
     Route: 064
  1167. BETAMETHASONE VALERATE [Concomitant]
     Active Substance: BETAMETHASONE VALERATE
     Indication: Product used for unknown indication
     Route: 064
  1168. BETAMETHASONE VALERATE [Concomitant]
     Active Substance: BETAMETHASONE VALERATE
     Route: 064
  1169. BOTOX [Concomitant]
     Active Substance: ONABOTULINUMTOXINA
     Indication: Product used for unknown indication
     Route: 064
  1170. CALCIUM PANTOTHENATE [Concomitant]
     Active Substance: CALCIUM PANTOTHENATE
     Indication: Product used for unknown indication
     Route: 064
  1171. CALCIUM\CHOLECALCIFEROL\MAGNESIUM [Concomitant]
     Active Substance: CALCIUM\CHOLECALCIFEROL\MAGNESIUM
     Indication: Product used for unknown indication
     Route: 064
  1172. CETIRIZINE HYDROCHLORIDE\PSEUDOEPHEDRINE HYDROCHLORIDE [Concomitant]
     Active Substance: CETIRIZINE HYDROCHLORIDE\PSEUDOEPHEDRINE HYDROCHLORIDE
     Indication: Product used for unknown indication
     Route: 064
  1173. TRICHOLINE CITRATE [Concomitant]
     Active Substance: TRICHOLINE CITRATE
     Indication: Product used for unknown indication
     Route: 064
  1174. DOMPERIDONE\PANTOPRAZOLE SODIUM [Concomitant]
     Active Substance: DOMPERIDONE\PANTOPRAZOLE SODIUM
     Indication: Product used for unknown indication
     Route: 064
  1175. DOMPERIDONE\PANTOPRAZOLE SODIUM [Concomitant]
     Active Substance: DOMPERIDONE\PANTOPRAZOLE SODIUM
     Route: 064
  1176. FETZIMA [Concomitant]
     Active Substance: LEVOMILNACIPRAN HYDROCHLORIDE
     Indication: Product used for unknown indication
     Route: 064
  1177. FETZIMA [Concomitant]
     Active Substance: LEVOMILNACIPRAN HYDROCHLORIDE
     Route: 064
  1178. FLUTICASONE FUROATE [Concomitant]
     Active Substance: FLUTICASONE FUROATE
     Indication: Product used for unknown indication
     Route: 064
  1179. MAGNESIUM CARBONATE [Concomitant]
     Active Substance: MAGNESIUM CARBONATE
     Indication: Product used for unknown indication
     Route: 064
  1180. MILNACIPRAN HYDROCHLORIDE [Concomitant]
     Active Substance: MILNACIPRAN HYDROCHLORIDE
     Indication: Product used for unknown indication
     Route: 064
  1181. MILNACIPRAN HYDROCHLORIDE [Concomitant]
     Active Substance: MILNACIPRAN HYDROCHLORIDE
     Route: 064
  1182. PAROXETINE [Concomitant]
     Active Substance: PAROXETINE
     Indication: Product used for unknown indication
     Route: 064
  1183. PAROXETINE HYDROCHLORIDE [Concomitant]
     Active Substance: PAROXETINE HYDROCHLORIDE
     Indication: Product used for unknown indication
     Route: 064
  1184. PREDNICARBATE [Concomitant]
     Active Substance: PREDNICARBATE
     Indication: Product used for unknown indication
     Route: 064
  1185. PYRIDOXINE HYDROCHLORIDE [Concomitant]
     Active Substance: PYRIDOXINE HYDROCHLORIDE
     Indication: Product used for unknown indication
     Route: 064
  1186. STRATTERA [Concomitant]
     Active Substance: ATOMOXETINE HYDROCHLORIDE
     Indication: Product used for unknown indication
     Route: 064
  1187. TOPAMAX [Concomitant]
     Active Substance: TOPIRAMATE
     Indication: Product used for unknown indication
     Route: 064
  1188. TOPAMAX [Concomitant]
     Active Substance: TOPIRAMATE
     Route: 064
  1189. TRAZODONE HYDROCHLORIDE [Concomitant]
     Active Substance: TRAZODONE HYDROCHLORIDE
     Indication: Product used for unknown indication
     Route: 064
  1190. TRAZODONE HYDROCHLORIDE [Concomitant]
     Active Substance: TRAZODONE HYDROCHLORIDE
     Route: 064
  1191. ACETAMINOPHEN [Concomitant]
     Active Substance: ACETAMINOPHEN
     Indication: Product used for unknown indication
     Route: 064
  1192. TUMS [Concomitant]
     Active Substance: CALCIUM CARBONATE
     Indication: Product used for unknown indication
     Route: 064
  1193. DIETARY SUPPLEMENT\MINERALS\VITAMINS [Concomitant]
     Active Substance: DIETARY SUPPLEMENT\MINERALS\VITAMINS
     Indication: Product used for unknown indication
     Dosage: 400 UNIT
     Route: 064
  1194. PREGABALIN [Concomitant]
     Active Substance: PREGABALIN
     Indication: Product used for unknown indication
     Route: 064
  1195. PSEUDOEPHEDRINE HYDROCHLORIDE AND TRIPROLIDINE HYDROCHLORIDE [Concomitant]
     Active Substance: PSEUDOEPHEDRINE HYDROCHLORIDE\TRIPROLIDINE HYDROCHLORIDE
     Indication: Product used for unknown indication
     Route: 064
  1196. ACETAMINOPHEN\OXYCODONE HYDROCHLORIDE [Concomitant]
     Active Substance: ACETAMINOPHEN\OXYCODONE HYDROCHLORIDE
     Indication: Product used for unknown indication
     Route: 064
  1197. ACETAMINOPHEN\OXYCODONE HYDROCHLORIDE [Concomitant]
     Active Substance: ACETAMINOPHEN\OXYCODONE HYDROCHLORIDE
     Route: 064
  1198. ACETAMINOPHEN\OXYCODONE HYDROCHLORIDE [Concomitant]
     Active Substance: ACETAMINOPHEN\OXYCODONE HYDROCHLORIDE
     Route: 064
  1199. CALCIUM CARBONATE\CHOLECALCIFEROL\MINERALS [Concomitant]
     Active Substance: CALCIUM CARBONATE\CHOLECALCIFEROL\MINERALS
     Indication: Product used for unknown indication
     Route: 064
  1200. DIPHENHYDRAMINE HYDROCHLORIDE [Concomitant]
     Active Substance: DIPHENHYDRAMINE HYDROCHLORIDE
     Indication: Product used for unknown indication
     Route: 064
  1201. HYALURONIDASE [Concomitant]
     Active Substance: HYALURONIDASE
     Indication: Product used for unknown indication
     Route: 064
  1202. MORPHINE SULFATE [Concomitant]
     Active Substance: MORPHINE SULFATE
     Indication: Product used for unknown indication
     Route: 064
  1203. CODEINE SULFATE [Concomitant]
     Active Substance: CODEINE SULFATE
     Indication: Product used for unknown indication
     Route: 064
  1204. MAGNESIUM GLUCONATE [Concomitant]
     Active Substance: MAGNESIUM GLUCONATE
     Indication: Product used for unknown indication
     Route: 064
  1205. MAGNESIUM GLUCONATE [Concomitant]
     Active Substance: MAGNESIUM GLUCONATE
     Route: 064
  1206. ETHINYL ESTRADIOL [Concomitant]
     Active Substance: ETHINYL ESTRADIOL
     Indication: Product used for unknown indication
     Route: 064
  1207. ADVIL (MEFENAMIC ACID) [Concomitant]
     Active Substance: MEFENAMIC ACID
     Indication: Product used for unknown indication
     Route: 064
  1208. CALCIUM CARBONATE\CHOLECALCIFEROL [Concomitant]
     Active Substance: CALCIUM CARBONATE\CHOLECALCIFEROL
     Indication: Product used for unknown indication
     Route: 064
  1209. ENTYVIO [Concomitant]
     Active Substance: VEDOLIZUMAB
     Indication: Product used for unknown indication
     Route: 064
  1210. PSEUDOEPHEDRINE HYDROCHLORIDE AND TRIPROLIDINE HYDROCHLORIDE [Concomitant]
     Active Substance: PSEUDOEPHEDRINE HYDROCHLORIDE\TRIPROLIDINE HYDROCHLORIDE
     Indication: Product used for unknown indication
     Route: 064
  1211. RINVOQ [Concomitant]
     Active Substance: UPADACITINIB
     Indication: Product used for unknown indication
     Route: 064
  1212. CORTISONE (HYDROCORTISONE) [Concomitant]
     Active Substance: HYDROCORTISONE
     Indication: Product used for unknown indication
     Route: 064
  1213. CORTISONE (HYDROCORTISONE) [Concomitant]
     Active Substance: HYDROCORTISONE
     Route: 064
  1214. TETRACYCLINE HYDROCHLORIDE [Concomitant]
     Active Substance: TETRACYCLINE HYDROCHLORIDE
     Indication: Product used for unknown indication
     Route: 064
  1215. THIAMINE HYDROCHLORIDE [Concomitant]
     Active Substance: THIAMINE HYDROCHLORIDE
     Indication: Product used for unknown indication
     Route: 064
  1216. TRAMADOL HYDROCHLORIDE [Concomitant]
     Active Substance: TRAMADOL HYDROCHLORIDE
     Indication: Product used for unknown indication
     Route: 064
  1217. ACETAMINOPHEN [Concomitant]
     Active Substance: ACETAMINOPHEN
     Indication: Product used for unknown indication
     Route: 064
  1218. DEXTROMETHORPHAN HYDROBROMIDE\PSEUDOEPHEDRINE HYDROCHLORIDE [Concomitant]
     Active Substance: DEXTROMETHORPHAN HYDROBROMIDE\PSEUDOEPHEDRINE HYDROCHLORIDE
     Indication: Product used for unknown indication
     Route: 064
  1219. DOCONEXENT\ICOSAPENT [Concomitant]
     Active Substance: DOCONEXENT\ICOSAPENT
     Indication: Product used for unknown indication
     Route: 064
  1220. SECUKINUMAB [Concomitant]
     Active Substance: SECUKINUMAB
     Indication: Product used for unknown indication
     Route: 064
  1221. MARVELON [Concomitant]
     Active Substance: DESOGESTREL\ETHINYL ESTRADIOL
     Indication: Product used for unknown indication
     Route: 064
  1222. TRIMETHOPRIM [Concomitant]
     Active Substance: TRIMETHOPRIM
     Indication: Product used for unknown indication
     Route: 064
  1223. PHENYLEPHRINE HYDROCHLORIDE;THEOBROMA CACAO OIL [Concomitant]
     Indication: Product used for unknown indication
     Route: 064

REACTIONS (2)
  - Congenital anomaly [Unknown]
  - Foetal exposure during pregnancy [Unknown]
